FAERS Safety Report 23369170 (Version 6)
Quarter: 2025Q4

REPORT INFORMATION
  Report Type: Spontaneous
  Country: CA (occurrence: CA)
  Receive Date: 20240105
  Receipt Date: 20251225
  Transmission Date: 20260117
  Serious: Yes (Congenital Anomaly)
  Sender: BRISTOL-MYERS SQUIBB COMPANY
  Company Number: CA-BRISTOL-MYERS SQUIBB COMPANY-2023-188761

PATIENT

DRUGS (1214)
  1. ORENCIA [Suspect]
     Active Substance: ABATACEPT
     Indication: Product used for unknown indication
     Dosage: UNK
     Dates: start: 201005, end: 201103
  2. ORENCIA [Suspect]
     Active Substance: ABATACEPT
     Dosage: UNK
  3. ORENCIA [Suspect]
     Active Substance: ABATACEPT
  4. ORENCIA [Suspect]
     Active Substance: ABATACEPT
  5. ORENCIA [Suspect]
     Active Substance: ABATACEPT
  6. ORENCIA [Suspect]
     Active Substance: ABATACEPT
  7. ORENCIA [Suspect]
     Active Substance: ABATACEPT
     Dosage: DURATION-11 YEARS
  8. ORENCIA [Suspect]
     Active Substance: ABATACEPT
  9. ORENCIA [Suspect]
     Active Substance: ABATACEPT
  10. ORENCIA [Suspect]
     Active Substance: ABATACEPT
  11. ORENCIA [Suspect]
     Active Substance: ABATACEPT
  12. ORENCIA [Suspect]
     Active Substance: ABATACEPT
  13. ORENCIA [Suspect]
     Active Substance: ABATACEPT
  14. ORENCIA [Suspect]
     Active Substance: ABATACEPT
  15. ORENCIA [Suspect]
     Active Substance: ABATACEPT
  16. ORENCIA [Suspect]
     Active Substance: ABATACEPT
  17. ORENCIA [Suspect]
     Active Substance: ABATACEPT
  18. ORENCIA [Suspect]
     Active Substance: ABATACEPT
  19. ORENCIA [Suspect]
     Active Substance: ABATACEPT
  20. ORENCIA [Suspect]
     Active Substance: ABATACEPT
     Dosage: UNK
  21. ORENCIA [Suspect]
     Active Substance: ABATACEPT
     Dosage: UNK
  22. ORENCIA [Suspect]
     Active Substance: ABATACEPT
     Indication: Product used for unknown indication
  23. ORENCIA [Suspect]
     Active Substance: ABATACEPT
  24. ORENCIA [Suspect]
     Active Substance: ABATACEPT
  25. ORENCIA [Suspect]
     Active Substance: ABATACEPT
  26. ORENCIA [Suspect]
     Active Substance: ABATACEPT
  27. ORENCIA [Suspect]
     Active Substance: ABATACEPT
  28. ORENCIA [Suspect]
     Active Substance: ABATACEPT
  29. ORENCIA [Suspect]
     Active Substance: ABATACEPT
  30. ORENCIA [Suspect]
     Active Substance: ABATACEPT
  31. ORENCIA [Suspect]
     Active Substance: ABATACEPT
  32. ORENCIA [Suspect]
     Active Substance: ABATACEPT
  33. ORENCIA [Suspect]
     Active Substance: ABATACEPT
  34. ORENCIA [Suspect]
     Active Substance: ABATACEPT
  35. ORENCIA [Suspect]
     Active Substance: ABATACEPT
  36. ORENCIA [Suspect]
     Active Substance: ABATACEPT
  37. ORENCIA [Suspect]
     Active Substance: ABATACEPT
  38. ORENCIA [Suspect]
     Active Substance: ABATACEPT
  39. ORENCIA [Suspect]
     Active Substance: ABATACEPT
     Indication: Product used for unknown indication
  40. ORENCIA [Suspect]
     Active Substance: ABATACEPT
  41. ORENCIA [Suspect]
     Active Substance: ABATACEPT
  42. ORENCIA [Suspect]
     Active Substance: ABATACEPT
  43. ORENCIA [Suspect]
     Active Substance: ABATACEPT
  44. ORENCIA [Suspect]
     Active Substance: ABATACEPT
  45. ORENCIA [Suspect]
     Active Substance: ABATACEPT
     Indication: Product used for unknown indication
  46. ORENCIA [Suspect]
     Active Substance: ABATACEPT
  47. ORENCIA [Suspect]
     Active Substance: ABATACEPT
  48. ORENCIA [Suspect]
     Active Substance: ABATACEPT
  49. ORENCIA [Suspect]
     Active Substance: ABATACEPT
     Indication: Product used for unknown indication
     Dosage: SOLUTION FOR INJECTION/SOLUTION FOR INFUSION
  50. ORENCIA [Suspect]
     Active Substance: ABATACEPT
     Dosage: SOLUTION FOR INJECTION/SOLUTION FOR INFUSION
  51. ORENCIA [Suspect]
     Active Substance: ABATACEPT
     Dosage: SOLUTION FOR INJECTION/SOLUTION FOR INFUSION
  52. ORENCIA [Suspect]
     Active Substance: ABATACEPT
  53. ORENCIA [Suspect]
     Active Substance: ABATACEPT
  54. ORENCIA [Suspect]
     Active Substance: ABATACEPT
     Dosage: SOLUTION FOR INFUSION/SOLUTION FOR INJECTION
  55. ORENCIA [Suspect]
     Active Substance: ABATACEPT
  56. TRIAMCINOLONE ACETONIDE [Suspect]
     Active Substance: TRIAMCINOLONE ACETONIDE
     Indication: Product used for unknown indication
     Dosage: SUSPENSION INTRA-ARTICULAR
  57. TRIAMCINOLONE ACETONIDE [Suspect]
     Active Substance: TRIAMCINOLONE ACETONIDE
     Dosage: SUSPENSION INTRA-ARTICULAR
  58. ACETAMINOPHEN [Suspect]
     Active Substance: ACETAMINOPHEN
     Indication: Product used for unknown indication
  59. INDOMETHACIN [Concomitant]
     Active Substance: INDOMETHACIN
     Indication: Product used for unknown indication
  60. REMICADE [Concomitant]
     Active Substance: INFLIXIMAB
     Indication: Product used for unknown indication
  61. REMICADE [Concomitant]
     Active Substance: INFLIXIMAB
  62. REMICADE [Concomitant]
     Active Substance: INFLIXIMAB
  63. REMICADE [Concomitant]
     Active Substance: INFLIXIMAB
     Dosage: POWDER FOR SOLUTION INTRAVENOUS
  64. REMICADE [Concomitant]
     Active Substance: INFLIXIMAB
     Dosage: POWDER FOR SOLUTION INTRAVENOUS
  65. REMICADE [Concomitant]
     Active Substance: INFLIXIMAB
  66. REMICADE [Concomitant]
     Active Substance: INFLIXIMAB
     Dosage: POWDER FOR SOLUTION INTRAVENOUS
  67. REMICADE [Concomitant]
     Active Substance: INFLIXIMAB
     Dosage: POWDER FOR SOLUTION INTRAVENOUS
  68. REMICADE [Concomitant]
     Active Substance: INFLIXIMAB
     Dosage: POWDER FOR SOLUTION INTRAVENOUS
  69. ACTEMRA [Concomitant]
     Active Substance: TOCILIZUMAB
     Indication: Product used for unknown indication
     Dosage: UNK
  70. ACTEMRA [Concomitant]
     Active Substance: TOCILIZUMAB
     Dosage: UNK
  71. ACTEMRA [Concomitant]
     Active Substance: TOCILIZUMAB
     Dosage: UNK
  72. ACTEMRA [Concomitant]
     Active Substance: TOCILIZUMAB
  73. ACTEMRA [Concomitant]
     Active Substance: TOCILIZUMAB
  74. ACTEMRA [Concomitant]
     Active Substance: TOCILIZUMAB
  75. ACTEMRA [Concomitant]
     Active Substance: TOCILIZUMAB
  76. ACTEMRA [Concomitant]
     Active Substance: TOCILIZUMAB
  77. ACTEMRA [Concomitant]
     Active Substance: TOCILIZUMAB
  78. ACTEMRA [Concomitant]
     Active Substance: TOCILIZUMAB
  79. ACTEMRA [Concomitant]
     Active Substance: TOCILIZUMAB
  80. ACTEMRA [Concomitant]
     Active Substance: TOCILIZUMAB
  81. ACTEMRA [Concomitant]
     Active Substance: TOCILIZUMAB
  82. ACTEMRA [Concomitant]
     Active Substance: TOCILIZUMAB
  83. ACTEMRA [Concomitant]
     Active Substance: TOCILIZUMAB
  84. ACTEMRA [Concomitant]
     Active Substance: TOCILIZUMAB
  85. ACTEMRA [Concomitant]
     Active Substance: TOCILIZUMAB
  86. ACTEMRA [Concomitant]
     Active Substance: TOCILIZUMAB
  87. ACTEMRA [Concomitant]
     Active Substance: TOCILIZUMAB
  88. ACTEMRA [Concomitant]
     Active Substance: TOCILIZUMAB
  89. ACTEMRA [Concomitant]
     Active Substance: TOCILIZUMAB
  90. ACTEMRA [Concomitant]
     Active Substance: TOCILIZUMAB
  91. ACTEMRA [Concomitant]
     Active Substance: TOCILIZUMAB
  92. ACTEMRA [Concomitant]
     Active Substance: TOCILIZUMAB
  93. ACTEMRA [Concomitant]
     Active Substance: TOCILIZUMAB
  94. ACTEMRA [Concomitant]
     Active Substance: TOCILIZUMAB
     Dosage: UNK
  95. ACTEMRA [Concomitant]
     Active Substance: TOCILIZUMAB
     Dosage: UNK
  96. ACTEMRA [Concomitant]
     Active Substance: TOCILIZUMAB
     Dosage: UNK
  97. ACTEMRA [Concomitant]
     Active Substance: TOCILIZUMAB
     Dosage: UNK
  98. ACTEMRA [Concomitant]
     Active Substance: TOCILIZUMAB
     Dosage: UNK
  99. ACTEMRA [Concomitant]
     Active Substance: TOCILIZUMAB
     Dosage: UNK
  100. ACTEMRA [Concomitant]
     Active Substance: TOCILIZUMAB
     Dosage: UNK
  101. CIMZIA [Concomitant]
     Active Substance: CERTOLIZUMAB PEGOL
     Indication: Product used for unknown indication
     Dosage: UNK
  102. CIMZIA [Concomitant]
     Active Substance: CERTOLIZUMAB PEGOL
     Dosage: 400 MILLIGRAM, QMO
  103. CIMZIA [Concomitant]
     Active Substance: CERTOLIZUMAB PEGOL
     Dosage: 400 MILLIGRAM
  104. CIMZIA [Concomitant]
     Active Substance: CERTOLIZUMAB PEGOL
     Dosage: 1 DOSAGE FORM, QD
  105. CIMZIA [Concomitant]
     Active Substance: CERTOLIZUMAB PEGOL
  106. CIMZIA [Concomitant]
     Active Substance: CERTOLIZUMAB PEGOL
  107. CIMZIA [Concomitant]
     Active Substance: CERTOLIZUMAB PEGOL
  108. CIMZIA [Concomitant]
     Active Substance: CERTOLIZUMAB PEGOL
     Dosage: UNK
  109. HUMIRA [Concomitant]
     Active Substance: ADALIMUMAB
     Indication: Product used for unknown indication
  110. HUMIRA [Concomitant]
     Active Substance: ADALIMUMAB
     Dosage: UNK
  111. HUMIRA [Concomitant]
     Active Substance: ADALIMUMAB
  112. HUMIRA [Concomitant]
     Active Substance: ADALIMUMAB
  113. HUMIRA [Concomitant]
     Active Substance: ADALIMUMAB
  114. HUMIRA [Concomitant]
     Active Substance: ADALIMUMAB
  115. HUMIRA [Concomitant]
     Active Substance: ADALIMUMAB
  116. HUMIRA [Concomitant]
     Active Substance: ADALIMUMAB
  117. HUMIRA [Concomitant]
     Active Substance: ADALIMUMAB
  118. HUMIRA [Concomitant]
     Active Substance: ADALIMUMAB
     Dosage: SOLUTION FOR INJECTION/INFUSION
  119. HUMIRA [Concomitant]
     Active Substance: ADALIMUMAB
     Dosage: SOLUTION FOR INJECTION/INFUSION
  120. HUMIRA [Concomitant]
     Active Substance: ADALIMUMAB
     Dosage: SOLUTION SUBCUTANEOUS
  121. HUMIRA [Concomitant]
     Active Substance: ADALIMUMAB
  122. HUMIRA [Concomitant]
     Active Substance: ADALIMUMAB
  123. HUMIRA [Concomitant]
     Active Substance: ADALIMUMAB
  124. HUMIRA [Concomitant]
     Active Substance: ADALIMUMAB
  125. HUMIRA [Concomitant]
     Active Substance: ADALIMUMAB
  126. HUMIRA [Concomitant]
     Active Substance: ADALIMUMAB
  127. HUMIRA [Concomitant]
     Active Substance: ADALIMUMAB
  128. HUMIRA [Concomitant]
     Active Substance: ADALIMUMAB
  129. ENBREL [Concomitant]
     Active Substance: ETANERCEPT
     Indication: Product used for unknown indication
     Dosage: UNK
  130. ENBREL [Concomitant]
     Active Substance: ETANERCEPT
     Dosage: 50 MILLIGRAM, QWK
  131. ENBREL [Concomitant]
     Active Substance: ETANERCEPT
     Dosage: UNK UNK, QWK
  132. ENBREL [Concomitant]
     Active Substance: ETANERCEPT
     Dosage: UNK
  133. ENBREL [Concomitant]
     Active Substance: ETANERCEPT
     Dosage: 20 MILLIGRAM
  134. ENBREL [Concomitant]
     Active Substance: ETANERCEPT
  135. ENBREL [Concomitant]
     Active Substance: ETANERCEPT
  136. ENBREL [Concomitant]
     Active Substance: ETANERCEPT
  137. ENBREL [Concomitant]
     Active Substance: ETANERCEPT
  138. ENBREL [Concomitant]
     Active Substance: ETANERCEPT
  139. ENBREL [Concomitant]
     Active Substance: ETANERCEPT
  140. ENBREL [Concomitant]
     Active Substance: ETANERCEPT
  141. RITUXAN [Concomitant]
     Active Substance: RITUXIMAB
     Indication: Product used for unknown indication
     Dosage: UNK
  142. RITUXAN [Concomitant]
     Active Substance: RITUXIMAB
  143. RITUXAN [Concomitant]
     Active Substance: RITUXIMAB
     Dosage: SOLUTION INTRAVENOUS
  144. RITUXAN [Concomitant]
     Active Substance: RITUXIMAB
     Dosage: SOLUTION INTRAVENOUS
  145. ARAVA [Concomitant]
     Active Substance: LEFLUNOMIDE
     Indication: Product used for unknown indication
     Dosage: UNK
  146. ARAVA [Concomitant]
     Active Substance: LEFLUNOMIDE
     Dosage: 20 MILLIGRAM
  147. ARAVA [Concomitant]
     Active Substance: LEFLUNOMIDE
     Dosage: UNK
  148. ARAVA [Concomitant]
     Active Substance: LEFLUNOMIDE
     Dosage: 20 MILLIGRAM, QD
  149. ARAVA [Concomitant]
     Active Substance: LEFLUNOMIDE
  150. ARAVA [Concomitant]
     Active Substance: LEFLUNOMIDE
  151. ARAVA [Concomitant]
     Active Substance: LEFLUNOMIDE
  152. ARAVA [Concomitant]
     Active Substance: LEFLUNOMIDE
  153. ARAVA [Concomitant]
     Active Substance: LEFLUNOMIDE
  154. HYDROXYCHLOROQUINE DIPHOSPHATE [Concomitant]
     Active Substance: HYDROXYCHLOROQUINE DIPHOSPHATE
     Indication: Product used for unknown indication
  155. HYDROXYCHLOROQUINE DIPHOSPHATE [Concomitant]
     Active Substance: HYDROXYCHLOROQUINE DIPHOSPHATE
  156. HYDROXYCHLOROQUINE DIPHOSPHATE [Concomitant]
     Active Substance: HYDROXYCHLOROQUINE DIPHOSPHATE
     Dosage: UNK
  157. HYDROXYCHLOROQUINE DIPHOSPHATE [Concomitant]
     Active Substance: HYDROXYCHLOROQUINE DIPHOSPHATE
  158. SULFATHALIDINE [Concomitant]
     Active Substance: PHTHALYLSULFATHIAZOLE
     Indication: Product used for unknown indication
  159. SULFATHALIDINE [Concomitant]
     Active Substance: PHTHALYLSULFATHIAZOLE
  160. CORTISONE [Concomitant]
     Active Substance: CORTISONE
     Indication: Product used for unknown indication
  161. CORTISONE [Concomitant]
     Active Substance: CORTISONE
  162. CORTISONE [Concomitant]
     Active Substance: CORTISONE
  163. CORTISONE [Concomitant]
     Active Substance: CORTISONE
  164. CORTISONE [Concomitant]
     Active Substance: CORTISONE
  165. CORTISONE [Concomitant]
     Active Substance: CORTISONE
  166. CORTISONE [Concomitant]
     Active Substance: CORTISONE
  167. CORTISONE [Concomitant]
     Active Substance: CORTISONE
  168. FOLIC ACID [Concomitant]
     Active Substance: FOLIC ACID
     Indication: Product used for unknown indication
  169. FOLIC ACID [Concomitant]
     Active Substance: FOLIC ACID
  170. FOLIC ACID [Concomitant]
     Active Substance: FOLIC ACID
  171. FOLIC ACID [Concomitant]
     Active Substance: FOLIC ACID
     Dosage: 1 MILLIGRAM
  172. FOLIC ACID [Concomitant]
     Active Substance: FOLIC ACID
     Dosage: 15 MILLIGRAM
  173. FOLIC ACID [Concomitant]
     Active Substance: FOLIC ACID
     Dosage: UNK
  174. FOLIC ACID [Concomitant]
     Active Substance: FOLIC ACID
  175. FOLIC ACID [Concomitant]
     Active Substance: FOLIC ACID
  176. FOLIC ACID [Concomitant]
     Active Substance: FOLIC ACID
  177. FOLIC ACID [Concomitant]
     Active Substance: FOLIC ACID
  178. METHOTREXATE [Concomitant]
     Active Substance: METHOTREXATE
     Indication: Product used for unknown indication
     Dosage: UNK
  179. METHOTREXATE [Concomitant]
     Active Substance: METHOTREXATE
     Dosage: 25 MILLIGRAM, QD
  180. METHOTREXATE [Concomitant]
     Active Substance: METHOTREXATE
     Dosage: 1 GRAM, BID
  181. METHOTREXATE [Concomitant]
     Active Substance: METHOTREXATE
  182. METHOTREXATE [Concomitant]
     Active Substance: METHOTREXATE
  183. METHOTREXATE [Concomitant]
     Active Substance: METHOTREXATE
  184. METHOTREXATE [Concomitant]
     Active Substance: METHOTREXATE
  185. METHOTREXATE [Concomitant]
     Active Substance: METHOTREXATE
  186. METHOTREXATE [Concomitant]
     Active Substance: METHOTREXATE
  187. METHOTREXATE [Concomitant]
     Active Substance: METHOTREXATE
  188. METHOTREXATE [Concomitant]
     Active Substance: METHOTREXATE
  189. PREDNISONE [Concomitant]
     Active Substance: PREDNISONE
     Indication: Product used for unknown indication
     Dosage: UNK
  190. PREDNISONE [Concomitant]
     Active Substance: PREDNISONE
     Dosage: 400 MILLIGRAM
  191. PREDNISONE [Concomitant]
     Active Substance: PREDNISONE
     Dosage: 5 MILLIGRAM
  192. PREDNISONE [Concomitant]
     Active Substance: PREDNISONE
     Dosage: 40 MILLIGRAM
  193. PREDNISONE [Concomitant]
     Active Substance: PREDNISONE
     Dosage: 1 MILLIGRAM
  194. PREDNISONE [Concomitant]
     Active Substance: PREDNISONE
     Dosage: UNK
  195. PREDNISONE [Concomitant]
     Active Substance: PREDNISONE
     Dosage: UNK
  196. PREDNISONE [Concomitant]
     Active Substance: PREDNISONE
     Dosage: 40 MILLIGRAM
  197. PREDNISONE [Concomitant]
     Active Substance: PREDNISONE
  198. PREDNISONE [Concomitant]
     Active Substance: PREDNISONE
  199. PREDNISONE [Concomitant]
     Active Substance: PREDNISONE
  200. PREDNISONE [Concomitant]
     Active Substance: PREDNISONE
  201. PREDNISONE [Concomitant]
     Active Substance: PREDNISONE
  202. PREDNISONE [Concomitant]
     Active Substance: PREDNISONE
  203. PREDNISONE [Concomitant]
     Active Substance: PREDNISONE
  204. PREDNISONE [Concomitant]
     Active Substance: PREDNISONE
  205. FOSAMAX [Concomitant]
     Active Substance: ALENDRONATE SODIUM
     Indication: Product used for unknown indication
     Dosage: UNK
  206. FOSAMAX [Concomitant]
     Active Substance: ALENDRONATE SODIUM
     Dosage: UNK
  207. FOSAMAX [Concomitant]
     Active Substance: ALENDRONATE SODIUM
     Dosage: UNK
  208. FOSAMAX [Concomitant]
     Active Substance: ALENDRONATE SODIUM
  209. FOSAMAX [Concomitant]
     Active Substance: ALENDRONATE SODIUM
     Dosage: UNK
  210. FOSAMAX [Concomitant]
     Active Substance: ALENDRONATE SODIUM
     Dosage: UNK
  211. CETIRIZINE HYDROCHLORIDE [Concomitant]
     Active Substance: CETIRIZINE HYDROCHLORIDE
     Indication: Product used for unknown indication
     Dosage: UNK
  212. CETIRIZINE HYDROCHLORIDE [Concomitant]
     Active Substance: CETIRIZINE HYDROCHLORIDE
     Dosage: 10 MILLIGRAM
  213. CETIRIZINE HYDROCHLORIDE [Concomitant]
     Active Substance: CETIRIZINE HYDROCHLORIDE
     Dosage: 20 MILLIGRAM
  214. CETIRIZINE HYDROCHLORIDE [Concomitant]
     Active Substance: CETIRIZINE HYDROCHLORIDE
  215. CETIRIZINE HYDROCHLORIDE [Concomitant]
     Active Substance: CETIRIZINE HYDROCHLORIDE
  216. CETIRIZINE HYDROCHLORIDE [Concomitant]
     Active Substance: CETIRIZINE HYDROCHLORIDE
  217. CETIRIZINE HYDROCHLORIDE [Concomitant]
     Active Substance: CETIRIZINE HYDROCHLORIDE
  218. CETIRIZINE HYDROCHLORIDE [Concomitant]
     Active Substance: CETIRIZINE HYDROCHLORIDE
     Dosage: UNK
  219. CETIRIZINE HYDROCHLORIDE [Concomitant]
     Active Substance: CETIRIZINE HYDROCHLORIDE
     Dosage: UNK
  220. HYDROXYCHLOROQUINE [Concomitant]
     Active Substance: HYDROXYCHLOROQUINE
     Indication: Product used for unknown indication
  221. HYDROXYCHLOROQUINE [Concomitant]
     Active Substance: HYDROXYCHLOROQUINE
  222. HYDROXYCHLOROQUINE [Concomitant]
     Active Substance: HYDROXYCHLOROQUINE
  223. SIMPONI [Concomitant]
     Active Substance: GOLIMUMAB
     Indication: Product used for unknown indication
  224. SIMPONI [Concomitant]
     Active Substance: GOLIMUMAB
  225. SIMPONI [Concomitant]
     Active Substance: GOLIMUMAB
  226. SIMPONI [Concomitant]
     Active Substance: GOLIMUMAB
  227. SIMPONI [Concomitant]
     Active Substance: GOLIMUMAB
  228. SIMPONI [Concomitant]
     Active Substance: GOLIMUMAB
  229. SIMPONI [Concomitant]
     Active Substance: GOLIMUMAB
  230. SIMPONI [Concomitant]
     Active Substance: GOLIMUMAB
  231. SIMPONI [Concomitant]
     Active Substance: GOLIMUMAB
  232. DESOXIMETASONE [Concomitant]
     Active Substance: DESOXIMETASONE
     Indication: Product used for unknown indication
     Dosage: UNK
  233. DESOXIMETASONE [Concomitant]
     Active Substance: DESOXIMETASONE
     Dosage: UNK
  234. DESOXIMETASONE [Concomitant]
     Active Substance: DESOXIMETASONE
     Dosage: 25 MILLIGRAM
  235. DESOXIMETASONE [Concomitant]
     Active Substance: DESOXIMETASONE
     Dosage: UNK
  236. DESOXIMETASONE [Concomitant]
     Active Substance: DESOXIMETASONE
  237. DESOXIMETASONE [Concomitant]
     Active Substance: DESOXIMETASONE
  238. DESOXIMETASONE [Concomitant]
     Active Substance: DESOXIMETASONE
  239. DESOXIMETASONE [Concomitant]
     Active Substance: DESOXIMETASONE
  240. SULFASALAZINE [Concomitant]
     Active Substance: SULFASALAZINE
     Indication: Product used for unknown indication
  241. SULFASALAZINE [Concomitant]
     Active Substance: SULFASALAZINE
     Dosage: 1 G, BID
  242. SULFASALAZINE [Concomitant]
     Active Substance: SULFASALAZINE
     Dosage: 1 G, BID
  243. SULFASALAZINE [Concomitant]
     Active Substance: SULFASALAZINE
     Dosage: UNK
  244. SULFASALAZINE [Concomitant]
     Active Substance: SULFASALAZINE
     Dosage: UNK
  245. SULFASALAZINE [Concomitant]
     Active Substance: SULFASALAZINE
  246. SULFASALAZINE [Concomitant]
     Active Substance: SULFASALAZINE
  247. SULFASALAZINE [Concomitant]
     Active Substance: SULFASALAZINE
  248. SULFASALAZINE [Concomitant]
     Active Substance: SULFASALAZINE
  249. SULFASALAZINE [Concomitant]
     Active Substance: SULFASALAZINE
  250. SULFASALAZINE [Concomitant]
     Active Substance: SULFASALAZINE
  251. SULFASALAZINE [Concomitant]
     Active Substance: SULFASALAZINE
  252. SULFASALAZINE [Concomitant]
     Active Substance: SULFASALAZINE
  253. SULFASALAZINE [Concomitant]
     Active Substance: SULFASALAZINE
  254. SULFASALAZINE [Concomitant]
     Active Substance: SULFASALAZINE
  255. SULFASALAZINE [Concomitant]
     Active Substance: SULFASALAZINE
  256. SULFASALAZINE [Concomitant]
     Active Substance: SULFASALAZINE
  257. SULFASALAZINE [Concomitant]
     Active Substance: SULFASALAZINE
  258. SULFASALAZINE [Concomitant]
     Active Substance: SULFASALAZINE
  259. SULFASALAZINE [Concomitant]
     Active Substance: SULFASALAZINE
  260. CETIRIZINE HYDROCHLORIDE [Concomitant]
     Active Substance: CETIRIZINE HYDROCHLORIDE
     Indication: Product used for unknown indication
     Dosage: UNK
  261. CETIRIZINE HYDROCHLORIDE [Concomitant]
     Active Substance: CETIRIZINE HYDROCHLORIDE
  262. CETIRIZINE HYDROCHLORIDE [Concomitant]
     Active Substance: CETIRIZINE HYDROCHLORIDE
  263. CETIRIZINE HYDROCHLORIDE [Concomitant]
     Active Substance: CETIRIZINE HYDROCHLORIDE
  264. CETIRIZINE HYDROCHLORIDE [Concomitant]
     Active Substance: CETIRIZINE HYDROCHLORIDE
  265. HYDROXYCHLOROQUINE [Concomitant]
     Active Substance: HYDROXYCHLOROQUINE
     Indication: Product used for unknown indication
  266. HYDROXYCHLOROQUINE [Concomitant]
     Active Substance: HYDROXYCHLOROQUINE
  267. HYDROXYCHLOROQUINE [Concomitant]
     Active Substance: HYDROXYCHLOROQUINE
  268. HYDROXYCHLOROQUINE [Concomitant]
     Active Substance: HYDROXYCHLOROQUINE
     Dosage: UNK
  269. HYDROXYCHLOROQUINE [Concomitant]
     Active Substance: HYDROXYCHLOROQUINE
  270. HYDROXYCHLOROQUINE [Concomitant]
     Active Substance: HYDROXYCHLOROQUINE
  271. HYDROXYCHLOROQUINE [Concomitant]
     Active Substance: HYDROXYCHLOROQUINE
  272. HYDROXYCHLOROQUINE [Concomitant]
     Active Substance: HYDROXYCHLOROQUINE
  273. HYDROXYCHLOROQUINE [Concomitant]
     Active Substance: HYDROXYCHLOROQUINE
  274. HYDROXYCHLOROQUINE [Concomitant]
     Active Substance: HYDROXYCHLOROQUINE
  275. HYDROXYCHLOROQUINE [Concomitant]
     Active Substance: HYDROXYCHLOROQUINE
  276. HYDROXYCHLOROQUINE [Concomitant]
     Active Substance: HYDROXYCHLOROQUINE
  277. METHOTREXATE [Concomitant]
     Active Substance: METHOTREXATE
     Indication: Product used for unknown indication
  278. METHOTREXATE [Concomitant]
     Active Substance: METHOTREXATE
     Dosage: 20 MILLIGRAM, QD
  279. METHOTREXATE [Concomitant]
     Active Substance: METHOTREXATE
  280. METHOTREXATE [Concomitant]
     Active Substance: METHOTREXATE
     Dosage: 25 MILLIGRAM
  281. METHOTREXATE [Concomitant]
     Active Substance: METHOTREXATE
     Dosage: UNK
  282. METHOTREXATE [Concomitant]
     Active Substance: METHOTREXATE
     Dosage: UNK
  283. METHOTREXATE [Concomitant]
     Active Substance: METHOTREXATE
     Dosage: 25 MILLIGRAM
  284. METHOTREXATE [Concomitant]
     Active Substance: METHOTREXATE
     Dosage: UNK
  285. METHOTREXATE [Concomitant]
     Active Substance: METHOTREXATE
     Dosage: 20 MILLIGRAM
  286. METHOTREXATE [Concomitant]
     Active Substance: METHOTREXATE
     Dosage: 25 MILLIGRAM, QWK
  287. METHOTREXATE [Concomitant]
     Active Substance: METHOTREXATE
     Dosage: 25 MILLIGRAM
  288. METHOTREXATE [Concomitant]
     Active Substance: METHOTREXATE
     Dosage: 15 MILLIGRAM
  289. METHOTREXATE [Concomitant]
     Active Substance: METHOTREXATE
  290. METHOTREXATE [Concomitant]
     Active Substance: METHOTREXATE
  291. METHOTREXATE [Concomitant]
     Active Substance: METHOTREXATE
  292. METHOTREXATE [Concomitant]
     Active Substance: METHOTREXATE
  293. METHOTREXATE [Concomitant]
     Active Substance: METHOTREXATE
  294. METHOTREXATE [Concomitant]
     Active Substance: METHOTREXATE
  295. HYDROXYCHLOROQUINE DIPHOSPHATE [Concomitant]
     Active Substance: HYDROXYCHLOROQUINE DIPHOSPHATE
     Indication: Product used for unknown indication
  296. HYDROXYCHLOROQUINE DIPHOSPHATE [Concomitant]
     Active Substance: HYDROXYCHLOROQUINE DIPHOSPHATE
  297. HYDROXYCHLOROQUINE DIPHOSPHATE [Concomitant]
     Active Substance: HYDROXYCHLOROQUINE DIPHOSPHATE
     Dosage: 400 MILLIGRAM, QD
  298. HYDROXYCHLOROQUINE DIPHOSPHATE [Concomitant]
     Active Substance: HYDROXYCHLOROQUINE DIPHOSPHATE
     Dosage: UNK
  299. HYDROCORTISONE ACETATE [Concomitant]
     Active Substance: HYDROCORTISONE ACETATE
     Indication: Product used for unknown indication
     Dosage: UNK
  300. HYDROCORTISONE ACETATE [Concomitant]
     Active Substance: HYDROCORTISONE ACETATE
     Dosage: UNK
  301. HYDROCORTISONE ACETATE [Concomitant]
     Active Substance: HYDROCORTISONE ACETATE
     Dosage: UNK
  302. HYDROCORTISONE ACETATE [Concomitant]
     Active Substance: HYDROCORTISONE ACETATE
     Dosage: UNK
  303. HYDROCORTISONE ACETATE [Concomitant]
     Active Substance: HYDROCORTISONE ACETATE
  304. HYDROCORTISONE ACETATE [Concomitant]
     Active Substance: HYDROCORTISONE ACETATE
  305. HYDROCORTISONE ACETATE [Concomitant]
     Active Substance: HYDROCORTISONE ACETATE
     Dosage: UNK
  306. HYDROCORTISONE ACETATE [Concomitant]
     Active Substance: HYDROCORTISONE ACETATE
     Dosage: UNK
  307. HYDROCORTISONE ACETATE [Concomitant]
     Active Substance: HYDROCORTISONE ACETATE
  308. HYDROCORTISONE ACETATE [Concomitant]
     Active Substance: HYDROCORTISONE ACETATE
  309. HYDROCORTISONE ACETATE [Concomitant]
     Active Substance: HYDROCORTISONE ACETATE
     Dosage: UNK
  310. HYDROCORTISONE ACETATE [Concomitant]
     Active Substance: HYDROCORTISONE ACETATE
     Dosage: UNK
  311. PHTHALYLSULFATHIAZOLE [Concomitant]
     Active Substance: PHTHALYLSULFATHIAZOLE
     Indication: Product used for unknown indication
     Dosage: UNK
  312. PHTHALYLSULFATHIAZOLE [Concomitant]
     Active Substance: PHTHALYLSULFATHIAZOLE
     Dosage: UNK
  313. PHTHALYLSULFATHIAZOLE [Concomitant]
     Active Substance: PHTHALYLSULFATHIAZOLE
     Dosage: UNK
  314. PHTHALYLSULFATHIAZOLE [Concomitant]
     Active Substance: PHTHALYLSULFATHIAZOLE
     Dosage: 500 MILLIGRAM
  315. PHTHALYLSULFATHIAZOLE [Concomitant]
     Active Substance: PHTHALYLSULFATHIAZOLE
     Dosage: 1000 MILLIGRAM, BID
  316. PHTHALYLSULFATHIAZOLE [Concomitant]
     Active Substance: PHTHALYLSULFATHIAZOLE
     Dosage: UNK
  317. PHTHALYLSULFATHIAZOLE [Concomitant]
     Active Substance: PHTHALYLSULFATHIAZOLE
  318. PHTHALYLSULFATHIAZOLE [Concomitant]
     Active Substance: PHTHALYLSULFATHIAZOLE
     Dosage: UNK
  319. PHTHALYLSULFATHIAZOLE [Concomitant]
     Active Substance: PHTHALYLSULFATHIAZOLE
  320. PHTHALYLSULFATHIAZOLE [Concomitant]
     Active Substance: PHTHALYLSULFATHIAZOLE
  321. PHTHALYLSULFATHIAZOLE [Concomitant]
     Active Substance: PHTHALYLSULFATHIAZOLE
  322. PHTHALYLSULFATHIAZOLE [Concomitant]
     Active Substance: PHTHALYLSULFATHIAZOLE
  323. PHTHALYLSULFATHIAZOLE [Concomitant]
     Active Substance: PHTHALYLSULFATHIAZOLE
  324. PHTHALYLSULFATHIAZOLE [Concomitant]
     Active Substance: PHTHALYLSULFATHIAZOLE
  325. PHTHALYLSULFATHIAZOLE [Concomitant]
     Active Substance: PHTHALYLSULFATHIAZOLE
  326. PHTHALYLSULFATHIAZOLE [Concomitant]
     Active Substance: PHTHALYLSULFATHIAZOLE
  327. PHTHALYLSULFATHIAZOLE [Concomitant]
     Active Substance: PHTHALYLSULFATHIAZOLE
  328. PHTHALYLSULFATHIAZOLE [Concomitant]
     Active Substance: PHTHALYLSULFATHIAZOLE
  329. PHTHALYLSULFATHIAZOLE [Concomitant]
     Active Substance: PHTHALYLSULFATHIAZOLE
  330. LEFLUNOMIDE [Concomitant]
     Active Substance: LEFLUNOMIDE
     Indication: Product used for unknown indication
     Dosage: UNK
  331. LEFLUNOMIDE [Concomitant]
     Active Substance: LEFLUNOMIDE
     Dosage: UNK
  332. LEFLUNOMIDE [Concomitant]
     Active Substance: LEFLUNOMIDE
  333. LEFLUNOMIDE [Concomitant]
     Active Substance: LEFLUNOMIDE
  334. LEFLUNOMIDE [Concomitant]
     Active Substance: LEFLUNOMIDE
  335. LEFLUNOMIDE [Concomitant]
     Active Substance: LEFLUNOMIDE
  336. LEFLUNOMIDE [Concomitant]
     Active Substance: LEFLUNOMIDE
     Dosage: UNK
  337. LEFLUNOMIDE [Concomitant]
     Active Substance: LEFLUNOMIDE
     Dosage: UNK
  338. HUMIRA [Concomitant]
     Active Substance: ADALIMUMAB
     Indication: Product used for unknown indication
     Dosage: UNK
  339. HUMIRA [Concomitant]
     Active Substance: ADALIMUMAB
     Dosage: UNK
  340. HUMIRA [Concomitant]
     Active Substance: ADALIMUMAB
     Dosage: 40 MILLIGRAM
  341. HUMIRA [Concomitant]
     Active Substance: ADALIMUMAB
     Dosage: 40 MILLIGRAM
  342. HUMIRA [Concomitant]
     Active Substance: ADALIMUMAB
     Dosage: SOLUTION FOR INJECTION/SOLUTION FOR INFUSION
  343. HUMIRA [Concomitant]
     Active Substance: ADALIMUMAB
     Dosage: SOLUTION FOR INJECTION/INFUSION
  344. HUMIRA [Concomitant]
     Active Substance: ADALIMUMAB
     Dosage: SOLUTION FOR INJECTION/INFUSION
  345. HUMIRA [Concomitant]
     Active Substance: ADALIMUMAB
  346. HUMIRA [Concomitant]
     Active Substance: ADALIMUMAB
  347. HUMIRA [Concomitant]
     Active Substance: ADALIMUMAB
  348. XELJANZ [Concomitant]
     Active Substance: TOFACITINIB CITRATE
     Indication: Product used for unknown indication
     Dosage: UNK
  349. XELJANZ [Concomitant]
     Active Substance: TOFACITINIB CITRATE
     Dosage: 5 MILLIGRAM, BID
  350. XELJANZ [Concomitant]
     Active Substance: TOFACITINIB CITRATE
  351. XELJANZ [Concomitant]
     Active Substance: TOFACITINIB CITRATE
     Dosage: 5 MILLIGRAM
  352. XELJANZ [Concomitant]
     Active Substance: TOFACITINIB CITRATE
  353. XELJANZ [Concomitant]
     Active Substance: TOFACITINIB CITRATE
  354. XELJANZ [Concomitant]
     Active Substance: TOFACITINIB CITRATE
  355. XELJANZ [Concomitant]
     Active Substance: TOFACITINIB CITRATE
  356. XELJANZ [Concomitant]
     Active Substance: TOFACITINIB CITRATE
  357. XELJANZ [Concomitant]
     Active Substance: TOFACITINIB CITRATE
  358. XELJANZ [Concomitant]
     Active Substance: TOFACITINIB CITRATE
  359. XELJANZ [Concomitant]
     Active Substance: TOFACITINIB CITRATE
  360. XELJANZ [Concomitant]
     Active Substance: TOFACITINIB CITRATE
  361. XELJANZ [Concomitant]
     Active Substance: TOFACITINIB CITRATE
  362. XELJANZ [Concomitant]
     Active Substance: TOFACITINIB CITRATE
  363. XELJANZ [Concomitant]
     Active Substance: TOFACITINIB CITRATE
  364. XELJANZ [Concomitant]
     Active Substance: TOFACITINIB CITRATE
  365. XELJANZ [Concomitant]
     Active Substance: TOFACITINIB CITRATE
  366. XELJANZ [Concomitant]
     Active Substance: TOFACITINIB CITRATE
  367. XELJANZ [Concomitant]
     Active Substance: TOFACITINIB CITRATE
  368. XELJANZ [Concomitant]
     Active Substance: TOFACITINIB CITRATE
  369. XELJANZ [Concomitant]
     Active Substance: TOFACITINIB CITRATE
     Dosage: UNK
  370. ACETAMINOPHEN [Concomitant]
     Active Substance: ACETAMINOPHEN
     Indication: Product used for unknown indication
  371. ACETAMINOPHEN [Concomitant]
     Active Substance: ACETAMINOPHEN
  372. ACETAMINOPHEN [Concomitant]
     Active Substance: ACETAMINOPHEN
  373. ACETAMINOPHEN [Concomitant]
     Active Substance: ACETAMINOPHEN
  374. ADALIMUMAB [Concomitant]
     Active Substance: ADALIMUMAB
     Indication: Product used for unknown indication
  375. ADALIMUMAB [Concomitant]
     Active Substance: ADALIMUMAB
  376. ADALIMUMAB [Concomitant]
     Active Substance: ADALIMUMAB
  377. ADALIMUMAB [Concomitant]
     Active Substance: ADALIMUMAB
  378. ADALIMUMAB [Concomitant]
     Active Substance: ADALIMUMAB
  379. ADALIMUMAB [Concomitant]
     Active Substance: ADALIMUMAB
  380. CELEBREX [Concomitant]
     Active Substance: CELECOXIB
     Indication: Product used for unknown indication
  381. CELEBREX [Concomitant]
     Active Substance: CELECOXIB
  382. CELEBREX [Concomitant]
     Active Substance: CELECOXIB
  383. CELEBREX [Concomitant]
     Active Substance: CELECOXIB
  384. CELEBREX [Concomitant]
     Active Substance: CELECOXIB
  385. ALENDRONATE SODIUM [Concomitant]
     Active Substance: ALENDRONATE SODIUM
     Indication: Product used for unknown indication
  386. ALENDRONATE SODIUM [Concomitant]
     Active Substance: ALENDRONATE SODIUM
     Dosage: UNK
  387. ALENDRONATE SODIUM [Concomitant]
     Active Substance: ALENDRONATE SODIUM
     Dosage: 1 MILLIGRAM
  388. ALENDRONATE SODIUM [Concomitant]
     Active Substance: ALENDRONATE SODIUM
  389. ALENDRONATE SODIUM [Concomitant]
     Active Substance: ALENDRONATE SODIUM
  390. ALENDRONATE SODIUM [Concomitant]
     Active Substance: ALENDRONATE SODIUM
  391. ALENDRONATE SODIUM [Concomitant]
     Active Substance: ALENDRONATE SODIUM
  392. ALENDRONATE SODIUM [Concomitant]
     Active Substance: ALENDRONATE SODIUM
     Dosage: SOLUTION SUBCUTANEOUS
  393. FOLIC ACID [Concomitant]
     Active Substance: FOLIC ACID
     Indication: Product used for unknown indication
     Dosage: 1 MILLIGRAM
  394. FOLIC ACID [Concomitant]
     Active Substance: FOLIC ACID
     Dosage: 5 MILLIGRAM
  395. FOLIC ACID [Concomitant]
     Active Substance: FOLIC ACID
     Dosage: 15 MILLIGRAM
  396. HYDROXYCHLOROQUINE SULFATE [Concomitant]
     Active Substance: HYDROXYCHLOROQUINE SULFATE
     Indication: Product used for unknown indication
     Dosage: UNK
  397. HYDROXYCHLOROQUINE SULFATE [Concomitant]
     Active Substance: HYDROXYCHLOROQUINE SULFATE
     Dosage: 400 MILLIGRAM, QD
  398. LEFLUNOMIDE [Concomitant]
     Active Substance: LEFLUNOMIDE
     Indication: Product used for unknown indication
     Dosage: UNK
  399. LEFLUNOMIDE [Concomitant]
     Active Substance: LEFLUNOMIDE
     Dosage: UNK
  400. CETIRIZINE HYDROCHLORIDE\PSEUDOEPHEDRINE HYDROCHLORIDE [Concomitant]
     Active Substance: CETIRIZINE HYDROCHLORIDE\PSEUDOEPHEDRINE HYDROCHLORIDE
     Indication: Product used for unknown indication
     Dosage: UNK
  401. PREDNISONE [Concomitant]
     Active Substance: PREDNISONE
     Indication: Product used for unknown indication
  402. PREDNISONE [Concomitant]
     Active Substance: PREDNISONE
     Dosage: 5 MILLIGRAM
  403. PREDNISONE [Concomitant]
     Active Substance: PREDNISONE
     Dosage: UNK
  404. PREDNISONE [Concomitant]
     Active Substance: PREDNISONE
     Dosage: UNK
  405. PREDNISONE [Concomitant]
     Active Substance: PREDNISONE
     Dosage: UNK
  406. PREDNISONE [Concomitant]
     Active Substance: PREDNISONE
     Dosage: UNK
  407. PREDNISONE [Concomitant]
     Active Substance: PREDNISONE
     Dosage: UNK
  408. PREDNISONE [Concomitant]
     Active Substance: PREDNISONE
     Dosage: UNK
  409. PREDNISONE [Concomitant]
     Active Substance: PREDNISONE
     Dosage: UNK
  410. PREDNISONE [Concomitant]
     Active Substance: PREDNISONE
  411. CIMZIA [Concomitant]
     Active Substance: CERTOLIZUMAB PEGOL
     Indication: Product used for unknown indication
     Dosage: UNK
  412. CIMZIA [Concomitant]
     Active Substance: CERTOLIZUMAB PEGOL
  413. CERTOLIZUMAB PEGOL [Concomitant]
     Active Substance: CERTOLIZUMAB PEGOL
     Indication: Product used for unknown indication
  414. CETIRIZINE HYDROCHLORIDE [Concomitant]
     Active Substance: CETIRIZINE HYDROCHLORIDE
     Indication: Product used for unknown indication
     Dosage: UNK
  415. CETIRIZINE HYDROCHLORIDE [Concomitant]
     Active Substance: CETIRIZINE HYDROCHLORIDE
     Dosage: UNK
  416. CETIRIZINE HYDROCHLORIDE [Concomitant]
     Active Substance: CETIRIZINE HYDROCHLORIDE
     Dosage: 10 MILLIGRAM
  417. CETIRIZINE HYDROCHLORIDE [Concomitant]
     Active Substance: CETIRIZINE HYDROCHLORIDE
     Dosage: 25 GRAM
  418. CETIRIZINE HYDROCHLORIDE [Concomitant]
     Active Substance: CETIRIZINE HYDROCHLORIDE
  419. CETIRIZINE HYDROCHLORIDE [Concomitant]
     Active Substance: CETIRIZINE HYDROCHLORIDE
  420. CETIRIZINE HYDROCHLORIDE [Concomitant]
     Active Substance: CETIRIZINE HYDROCHLORIDE
  421. CETIRIZINE [Concomitant]
     Active Substance: CETIRIZINE HYDROCHLORIDE
     Indication: Product used for unknown indication
  422. CETIRIZINE [Concomitant]
     Active Substance: CETIRIZINE HYDROCHLORIDE
  423. CETIRIZINE [Concomitant]
     Active Substance: CETIRIZINE HYDROCHLORIDE
  424. CETIRIZINE [Concomitant]
     Active Substance: CETIRIZINE HYDROCHLORIDE
  425. CETIRIZINE [Concomitant]
     Active Substance: CETIRIZINE HYDROCHLORIDE
  426. CETIRIZINE [Concomitant]
     Active Substance: CETIRIZINE HYDROCHLORIDE
  427. CETIRIZINE [Concomitant]
     Active Substance: CETIRIZINE HYDROCHLORIDE
  428. CETIRIZINE [Concomitant]
     Active Substance: CETIRIZINE HYDROCHLORIDE
  429. CETIRIZINE [Concomitant]
     Active Substance: CETIRIZINE HYDROCHLORIDE
  430. CETIRIZINE [Concomitant]
     Active Substance: CETIRIZINE HYDROCHLORIDE
  431. CETIRIZINE [Concomitant]
     Active Substance: CETIRIZINE HYDROCHLORIDE
  432. ZYRTEC [Concomitant]
     Active Substance: CETIRIZINE HYDROCHLORIDE
     Indication: Product used for unknown indication
     Dosage: 10 MILLIGRAM
  433. CETIRIZINE HYDROCHLORIDE\PSEUDOEPHEDRINE HYDROCHLORIDE [Concomitant]
     Active Substance: CETIRIZINE HYDROCHLORIDE\PSEUDOEPHEDRINE HYDROCHLORIDE
     Indication: Product used for unknown indication
  434. CETIRIZINE HYDROCHLORIDE\PSEUDOEPHEDRINE HYDROCHLORIDE [Concomitant]
     Active Substance: CETIRIZINE HYDROCHLORIDE\PSEUDOEPHEDRINE HYDROCHLORIDE
  435. CETIRIZINE HYDROCHLORIDE\PSEUDOEPHEDRINE HYDROCHLORIDE [Concomitant]
     Active Substance: CETIRIZINE HYDROCHLORIDE\PSEUDOEPHEDRINE HYDROCHLORIDE
     Indication: Product used for unknown indication
  436. CETIRIZINE HYDROCHLORIDE [Concomitant]
     Active Substance: CETIRIZINE HYDROCHLORIDE
     Indication: Product used for unknown indication
     Dosage: 10 MILLIGRAM
  437. CETIRIZINE HYDROCHLORIDE [Concomitant]
     Active Substance: CETIRIZINE HYDROCHLORIDE
  438. CETIRIZINE HYDROCHLORIDE [Concomitant]
     Active Substance: CETIRIZINE HYDROCHLORIDE
     Dosage: 10 MILLIGRAM
  439. CETIRIZINE HYDROCHLORIDE [Concomitant]
     Active Substance: CETIRIZINE HYDROCHLORIDE
     Dosage: UNK
  440. CETIRIZINE HYDROCHLORIDE [Concomitant]
     Active Substance: CETIRIZINE HYDROCHLORIDE
     Dosage: UNK
  441. CETIRIZINE HYDROCHLORIDE [Concomitant]
     Active Substance: CETIRIZINE HYDROCHLORIDE
     Dosage: UNK
  442. CETIRIZINE HYDROCHLORIDE [Concomitant]
     Active Substance: CETIRIZINE HYDROCHLORIDE
  443. CETIRIZINE HYDROCHLORIDE [Concomitant]
     Active Substance: CETIRIZINE HYDROCHLORIDE
  444. CETIRIZINE HYDROCHLORIDE [Concomitant]
     Active Substance: CETIRIZINE HYDROCHLORIDE
  445. CETIRIZINE HYDROCHLORIDE [Concomitant]
     Active Substance: CETIRIZINE HYDROCHLORIDE
  446. CETIRIZINE HYDROCHLORIDE [Concomitant]
     Active Substance: CETIRIZINE HYDROCHLORIDE
  447. CETIRIZINE HYDROCHLORIDE [Concomitant]
     Active Substance: CETIRIZINE HYDROCHLORIDE
  448. CETIRIZINE HYDROCHLORIDE [Concomitant]
     Active Substance: CETIRIZINE HYDROCHLORIDE
  449. CETIRIZINE HYDROCHLORIDE [Concomitant]
     Active Substance: CETIRIZINE HYDROCHLORIDE
  450. CETIRIZINE HYDROCHLORIDE [Concomitant]
     Active Substance: CETIRIZINE HYDROCHLORIDE
  451. CETIRIZINE HYDROCHLORIDE [Concomitant]
     Active Substance: CETIRIZINE HYDROCHLORIDE
  452. CETIRIZINE HYDROCHLORIDE [Concomitant]
     Active Substance: CETIRIZINE HYDROCHLORIDE
  453. CETIRIZINE\IBUPROFEN\PHENYLEPHRINE [Concomitant]
     Active Substance: CETIRIZINE\IBUPROFEN\PHENYLEPHRINE
     Indication: Product used for unknown indication
     Dosage: 10 MILLIGRAM
  454. CETIRIZINE\IBUPROFEN\PHENYLEPHRINE [Concomitant]
     Active Substance: CETIRIZINE\IBUPROFEN\PHENYLEPHRINE
     Dosage: 25 MILLIGRAM
  455. CORTISONE [Concomitant]
     Active Substance: CORTISONE
     Indication: Product used for unknown indication
     Dosage: 25 MILLIGRAM
  456. CORTISONE [Concomitant]
     Active Substance: CORTISONE
     Dosage: UNK UNK, PRN
  457. CORTISONE [Concomitant]
     Active Substance: CORTISONE
  458. CORTISONE [Concomitant]
     Active Substance: CORTISONE
  459. CORTISONE [Concomitant]
     Active Substance: CORTISONE
  460. CORTISONE [Concomitant]
     Active Substance: CORTISONE
  461. CORTISONE ACETATE [Concomitant]
     Active Substance: CORTISONE ACETATE
     Indication: Product used for unknown indication
     Dosage: UNK
  462. CORTISONE ACETATE [Concomitant]
     Active Substance: CORTISONE ACETATE
  463. CORTISONE ACETATE [Concomitant]
     Active Substance: CORTISONE ACETATE
  464. CORTISONE ACETATE [Concomitant]
     Active Substance: CORTISONE ACETATE
  465. CORTISONE ACETATE [Concomitant]
     Active Substance: CORTISONE ACETATE
  466. CORTISONE ACETATE [Concomitant]
     Active Substance: CORTISONE ACETATE
  467. CORTISONE ACETATE [Concomitant]
     Active Substance: CORTISONE ACETATE
  468. CORTISONE ACETATE [Concomitant]
     Active Substance: CORTISONE ACETATE
  469. CORTISONE ACETATE [Concomitant]
     Active Substance: CORTISONE ACETATE
  470. CORTISONE ACETATE [Concomitant]
     Active Substance: CORTISONE ACETATE
  471. CORTISONE ACETATE [Concomitant]
     Active Substance: CORTISONE ACETATE
  472. CORTISONE ACETATE [Concomitant]
     Active Substance: CORTISONE ACETATE
  473. CORTISONE ACETATE [Concomitant]
     Active Substance: CORTISONE ACETATE
  474. NAPROXEN SODIUM [Concomitant]
     Active Substance: NAPROXEN SODIUM
     Indication: Product used for unknown indication
     Dosage: UNK, QD
  475. NAPROXEN SODIUM [Concomitant]
     Active Substance: NAPROXEN SODIUM
  476. NAPROXEN SODIUM [Concomitant]
     Active Substance: NAPROXEN SODIUM
  477. NAPROXEN SODIUM [Concomitant]
     Active Substance: NAPROXEN SODIUM
  478. NAPROXEN SODIUM [Concomitant]
     Active Substance: NAPROXEN SODIUM
  479. COSENTYX [Concomitant]
     Active Substance: SECUKINUMAB
     Indication: Product used for unknown indication
  480. COSENTYX [Concomitant]
     Active Substance: SECUKINUMAB
  481. COSENTYX [Concomitant]
     Active Substance: SECUKINUMAB
  482. COSENTYX [Concomitant]
     Active Substance: SECUKINUMAB
  483. COSENTYX [Concomitant]
     Active Substance: SECUKINUMAB
  484. DESOXIMETASONE [Concomitant]
     Active Substance: DESOXIMETASONE
     Indication: Product used for unknown indication
     Dosage: 25 MILLIGRAM
  485. DESOXIMETASONE [Concomitant]
     Active Substance: DESOXIMETASONE
     Dosage: UNK
  486. DESOXIMETASONE [Concomitant]
     Active Substance: DESOXIMETASONE
     Dosage: UNK
  487. DESOXIMETASONE [Concomitant]
     Active Substance: DESOXIMETASONE
     Dosage: 25 MILLIGRAM
  488. DESOXIMETASONE [Concomitant]
     Active Substance: DESOXIMETASONE
     Dosage: 25 MILLIGRAM, QWK
  489. DESOXIMETASONE [Concomitant]
     Active Substance: DESOXIMETASONE
     Dosage: 25 MILLIGRAM
  490. DESOXIMETASONE [Concomitant]
     Active Substance: DESOXIMETASONE
  491. DESOXIMETASONE [Concomitant]
     Active Substance: DESOXIMETASONE
  492. DESOXIMETASONE [Concomitant]
     Active Substance: DESOXIMETASONE
  493. DESOXIMETASONE [Concomitant]
     Active Substance: DESOXIMETASONE
  494. DESOXIMETASONE [Concomitant]
     Active Substance: DESOXIMETASONE
  495. DESOXIMETASONE [Concomitant]
     Active Substance: DESOXIMETASONE
  496. DESOXIMETASONE [Concomitant]
     Active Substance: DESOXIMETASONE
  497. DESOXIMETASONE [Concomitant]
     Active Substance: DESOXIMETASONE
  498. DESOXIMETASONE [Concomitant]
     Active Substance: DESOXIMETASONE
  499. DESOXIMETASONE [Concomitant]
     Active Substance: DESOXIMETASONE
  500. DESOXIMETASONE [Concomitant]
     Active Substance: DESOXIMETASONE
  501. DESOXIMETASONE [Concomitant]
     Active Substance: DESOXIMETASONE
  502. DESOXIMETASONE [Concomitant]
     Active Substance: DESOXIMETASONE
  503. DESOXIMETASONE [Concomitant]
     Active Substance: DESOXIMETASONE
  504. DESOXIMETASONE [Concomitant]
     Active Substance: DESOXIMETASONE
  505. DESOXIMETASONE [Concomitant]
     Active Substance: DESOXIMETASONE
  506. DESOXIMETASONE [Concomitant]
     Active Substance: DESOXIMETASONE
  507. DESOXIMETASONE [Concomitant]
     Active Substance: DESOXIMETASONE
  508. DESOXIMETASONE [Concomitant]
     Active Substance: DESOXIMETASONE
  509. DESOXIMETASONE [Concomitant]
     Active Substance: DESOXIMETASONE
  510. DESOXIMETASONE [Concomitant]
     Active Substance: DESOXIMETASONE
  511. DESOXIMETASONE [Concomitant]
     Active Substance: DESOXIMETASONE
  512. DESOXIMETASONE [Concomitant]
     Active Substance: DESOXIMETASONE
  513. DESOXIMETASONE [Concomitant]
     Active Substance: DESOXIMETASONE
  514. DESOXIMETASONE [Concomitant]
     Active Substance: DESOXIMETASONE
  515. DESOXIMETASONE [Concomitant]
     Active Substance: DESOXIMETASONE
     Indication: Product used for unknown indication
  516. DICLOFENAC [Concomitant]
     Active Substance: DICLOFENAC
     Indication: Product used for unknown indication
  517. DICLOFENAC [Concomitant]
     Active Substance: DICLOFENAC
  518. DICLOFENAC [Concomitant]
     Active Substance: DICLOFENAC
  519. DICLOFENAC SODIUM [Concomitant]
     Active Substance: DICLOFENAC SODIUM
     Indication: Product used for unknown indication
     Dosage: UNK
  520. DICLOFENAC SODIUM [Concomitant]
     Active Substance: DICLOFENAC SODIUM
  521. DICLOFENAC SODIUM [Concomitant]
     Active Substance: DICLOFENAC SODIUM
  522. DICLOFENAC SODIUM [Concomitant]
     Active Substance: DICLOFENAC SODIUM
     Dosage: UNK
  523. DICLOFENAC SODIUM [Concomitant]
     Active Substance: DICLOFENAC SODIUM
  524. DICLOFENAC SODIUM [Concomitant]
     Active Substance: DICLOFENAC SODIUM
  525. DICLOFENAC SODIUM [Concomitant]
     Active Substance: DICLOFENAC SODIUM
  526. DICLOFENAC SODIUM [Concomitant]
     Active Substance: DICLOFENAC SODIUM
  527. DICLOFENAC SODIUM [Concomitant]
     Active Substance: DICLOFENAC SODIUM
  528. DICLOFENAC SODIUM [Concomitant]
     Active Substance: DICLOFENAC SODIUM
  529. DICLOFENAC SODIUM [Concomitant]
     Active Substance: DICLOFENAC SODIUM
  530. DICLOFENAC SODIUM [Concomitant]
     Active Substance: DICLOFENAC SODIUM
  531. ETANERCEPT [Concomitant]
     Active Substance: ETANERCEPT
     Indication: Product used for unknown indication
     Dosage: UNK
  532. ETANERCEPT [Concomitant]
     Active Substance: ETANERCEPT
     Dosage: UNK
  533. ETANERCEPT [Concomitant]
     Active Substance: ETANERCEPT
     Dosage: UNK
  534. ENBREL [Concomitant]
     Active Substance: ETANERCEPT
     Indication: Product used for unknown indication
  535. ENBREL [Concomitant]
     Active Substance: ETANERCEPT
  536. ENBREL [Concomitant]
     Active Substance: ETANERCEPT
     Dosage: UNK
  537. ENBREL [Concomitant]
     Active Substance: ETANERCEPT
  538. ENBREL [Concomitant]
     Active Substance: ETANERCEPT
  539. ENBREL [Concomitant]
     Active Substance: ETANERCEPT
  540. ENBREL [Concomitant]
     Active Substance: ETANERCEPT
  541. ENBREL [Concomitant]
     Active Substance: ETANERCEPT
  542. ENBREL [Concomitant]
     Active Substance: ETANERCEPT
  543. ERELZI [Concomitant]
     Active Substance: ETANERCEPT-SZZS
     Indication: Product used for unknown indication
     Dosage: UNK
  544. ERELZI [Concomitant]
     Active Substance: ETANERCEPT-SZZS
     Dosage: UNK
  545. ERELZI [Concomitant]
     Active Substance: ETANERCEPT-SZZS
  546. ERELZI [Concomitant]
     Active Substance: ETANERCEPT-SZZS
  547. FOLIC ACID [Concomitant]
     Active Substance: FOLIC ACID
     Indication: Product used for unknown indication
     Dosage: 1 MILLIGRAM
  548. FOLIC ACID [Concomitant]
     Active Substance: FOLIC ACID
     Dosage: 5 MILLIGRAM
  549. FOLIC ACID [Concomitant]
     Active Substance: FOLIC ACID
     Dosage: 1 GRAM
  550. FOLIC ACID [Concomitant]
     Active Substance: FOLIC ACID
  551. FOLIC ACID [Concomitant]
     Active Substance: FOLIC ACID
  552. FOLIC ACID [Concomitant]
     Active Substance: FOLIC ACID
     Dosage: UNK
  553. FOLIC ACID [Concomitant]
     Active Substance: FOLIC ACID
     Dosage: UNK
  554. FOLIC ACID [Concomitant]
     Active Substance: FOLIC ACID
  555. FOLIC ACID [Concomitant]
     Active Substance: FOLIC ACID
  556. FOLIC ACID [Concomitant]
     Active Substance: FOLIC ACID
  557. FOLIC ACID [Concomitant]
     Active Substance: FOLIC ACID
     Dosage: 3 MILLIGRAM
  558. FOLIC ACID [Concomitant]
     Active Substance: FOLIC ACID
  559. FOLIC ACID [Concomitant]
     Active Substance: FOLIC ACID
  560. FOLIC ACID [Concomitant]
     Active Substance: FOLIC ACID
  561. FOLIC ACID [Concomitant]
     Active Substance: FOLIC ACID
  562. FOLIC ACID [Concomitant]
     Active Substance: FOLIC ACID
  563. FOLIC ACID [Concomitant]
     Active Substance: FOLIC ACID
  564. FOLIC ACID [Concomitant]
     Active Substance: FOLIC ACID
  565. FOLIC ACID [Concomitant]
     Active Substance: FOLIC ACID
  566. FOLIC ACID [Concomitant]
     Active Substance: FOLIC ACID
  567. FOLIC ACID [Concomitant]
     Active Substance: FOLIC ACID
  568. FOLIC ACID [Concomitant]
     Active Substance: FOLIC ACID
  569. FOLIC ACID [Concomitant]
     Active Substance: FOLIC ACID
  570. FOLIC ACID [Concomitant]
     Active Substance: FOLIC ACID
  571. FOLIC ACID [Concomitant]
     Active Substance: FOLIC ACID
  572. GOLIMUMAB [Concomitant]
     Active Substance: GOLIMUMAB
     Indication: Product used for unknown indication
     Dosage: UNK
  573. GOLIMUMAB [Concomitant]
     Active Substance: GOLIMUMAB
     Dosage: UNK
  574. SIMPONI [Concomitant]
     Active Substance: GOLIMUMAB
     Indication: Product used for unknown indication
     Dosage: UNK
  575. SIMPONI [Concomitant]
     Active Substance: GOLIMUMAB
     Dosage: UNK
  576. SIMPONI [Concomitant]
     Active Substance: GOLIMUMAB
     Dosage: UNK
  577. SIMPONI [Concomitant]
     Active Substance: GOLIMUMAB
  578. SIMPONI [Concomitant]
     Active Substance: GOLIMUMAB
  579. SIMPONI [Concomitant]
     Active Substance: GOLIMUMAB
  580. SIMPONI [Concomitant]
     Active Substance: GOLIMUMAB
  581. SIMPONI [Concomitant]
     Active Substance: GOLIMUMAB
  582. SIMPONI [Concomitant]
     Active Substance: GOLIMUMAB
     Dosage: SOLUTION SUBCUTANEOUS
  583. SIMPONI [Concomitant]
     Active Substance: GOLIMUMAB
     Dosage: SOLUTION SUBCUTANEOUS
  584. HYDROCORTISONE ACETATE [Concomitant]
     Active Substance: HYDROCORTISONE ACETATE
     Indication: Product used for unknown indication
     Dosage: UNK
  585. HYDROCORTISONE ACETATE [Concomitant]
     Active Substance: HYDROCORTISONE ACETATE
     Dosage: UNK
  586. HYDROCORTISONE ACETATE [Concomitant]
     Active Substance: HYDROCORTISONE ACETATE
     Dosage: UNK
  587. HYDROCORTISONE ACETATE [Concomitant]
     Active Substance: HYDROCORTISONE ACETATE
     Indication: Product used for unknown indication
  588. HYDROCORTISONE ACETATE [Concomitant]
     Active Substance: HYDROCORTISONE ACETATE
  589. HYDROCORTISONE ACETATE [Concomitant]
     Active Substance: HYDROCORTISONE ACETATE
  590. HYDROCORTISONE ACETATE [Concomitant]
     Active Substance: HYDROCORTISONE ACETATE
  591. HYDROCORTISONE ACETATE [Concomitant]
     Active Substance: HYDROCORTISONE ACETATE
  592. HYDROCORTISONE ACETATE [Concomitant]
     Active Substance: HYDROCORTISONE ACETATE
  593. HYDROCORTISONE ACETATE [Concomitant]
     Active Substance: HYDROCORTISONE ACETATE
  594. HYDROCORTISONE ACETATE [Concomitant]
     Active Substance: HYDROCORTISONE ACETATE
  595. HYDROCORTISONE ACETATE [Concomitant]
     Active Substance: HYDROCORTISONE ACETATE
  596. HYDROXYCHLOROQUINE SULFATE [Concomitant]
     Active Substance: HYDROXYCHLOROQUINE SULFATE
     Indication: Product used for unknown indication
     Dates: start: 2006
  597. HYDROXYCHLOROQUINE SULFATE [Concomitant]
     Active Substance: HYDROXYCHLOROQUINE SULFATE
     Dates: start: 2006
  598. HYDROXYCHLOROQUINE SULFATE [Concomitant]
     Active Substance: HYDROXYCHLOROQUINE SULFATE
     Dosage: UNK
  599. HYDROXYCHLOROQUINE SULFATE [Concomitant]
     Active Substance: HYDROXYCHLOROQUINE SULFATE
     Dosage: UNK
  600. HYDROXYCHLOROQUINE SULFATE [Concomitant]
     Active Substance: HYDROXYCHLOROQUINE SULFATE
  601. HYDROXYCHLOROQUINE SULFATE [Concomitant]
     Active Substance: HYDROXYCHLOROQUINE SULFATE
     Dosage: 400 MILLIGRAM, QD
  602. HYDROXYCHLOROQUINE SULFATE [Concomitant]
     Active Substance: HYDROXYCHLOROQUINE SULFATE
     Dosage: UNK
  603. HYDROXYCHLOROQUINE SULFATE [Concomitant]
     Active Substance: HYDROXYCHLOROQUINE SULFATE
  604. HYDROXYCHLOROQUINE SULFATE [Concomitant]
     Active Substance: HYDROXYCHLOROQUINE SULFATE
     Dosage: 4000 MILLIGRAM, QD
  605. HYDROXYCHLOROQUINE SULFATE [Concomitant]
     Active Substance: HYDROXYCHLOROQUINE SULFATE
     Dosage: UNK
  606. HYDROXYCHLOROQUINE SULFATE [Concomitant]
     Active Substance: HYDROXYCHLOROQUINE SULFATE
  607. HYDROXYCHLOROQUINE SULFATE [Concomitant]
     Active Substance: HYDROXYCHLOROQUINE SULFATE
  608. HYDROXYCHLOROQUINE SULFATE [Concomitant]
     Active Substance: HYDROXYCHLOROQUINE SULFATE
  609. HYDROXYCHLOROQUINE SULFATE [Concomitant]
     Active Substance: HYDROXYCHLOROQUINE SULFATE
  610. HYDROXYCHLOROQUINE SULFATE [Concomitant]
     Active Substance: HYDROXYCHLOROQUINE SULFATE
  611. HYDROXYCHLOROQUINE SULFATE [Concomitant]
     Active Substance: HYDROXYCHLOROQUINE SULFATE
  612. HYDROXYCHLOROQUINE SULFATE [Concomitant]
     Active Substance: HYDROXYCHLOROQUINE SULFATE
  613. HYDROXYCHLOROQUINE SULFATE [Concomitant]
     Active Substance: HYDROXYCHLOROQUINE SULFATE
  614. HYDROXYCHLOROQUINE SULFATE [Concomitant]
     Active Substance: HYDROXYCHLOROQUINE SULFATE
  615. HYDROXYCHLOROQUINE SULFATE [Concomitant]
     Active Substance: HYDROXYCHLOROQUINE SULFATE
  616. HYDROXYCHLOROQUINE SULFATE [Concomitant]
     Active Substance: HYDROXYCHLOROQUINE SULFATE
  617. HYDROXYCHLOROQUINE SULFATE [Concomitant]
     Active Substance: HYDROXYCHLOROQUINE SULFATE
  618. HYDROXYCHLOROQUINE DIPHOSPHATE [Concomitant]
     Active Substance: HYDROXYCHLOROQUINE DIPHOSPHATE
     Indication: Product used for unknown indication
  619. HYDROXYCHLOROQUINE DIPHOSPHATE [Concomitant]
     Active Substance: HYDROXYCHLOROQUINE DIPHOSPHATE
     Indication: Product used for unknown indication
  620. PLAQUENIL [Concomitant]
     Active Substance: HYDROXYCHLOROQUINE SULFATE
     Indication: Product used for unknown indication
  621. PLAQUENIL [Concomitant]
     Active Substance: HYDROXYCHLOROQUINE SULFATE
     Dosage: 400 MILLIGRAM, QD
  622. PLAQUENIL [Concomitant]
     Active Substance: HYDROXYCHLOROQUINE SULFATE
     Dosage: 400 MILLIGRAM
  623. PLAQUENIL [Concomitant]
     Active Substance: HYDROXYCHLOROQUINE SULFATE
     Dosage: 40 MILLIGRAM, QD
  624. PLAQUENIL [Concomitant]
     Active Substance: HYDROXYCHLOROQUINE SULFATE
     Dosage: 40 MILLIGRAM, QD
  625. PLAQUENIL [Concomitant]
     Active Substance: HYDROXYCHLOROQUINE SULFATE
  626. PLAQUENIL [Concomitant]
     Active Substance: HYDROXYCHLOROQUINE SULFATE
  627. KEVZARA [Concomitant]
     Active Substance: SARILUMAB
     Indication: Product used for unknown indication
  628. KEVZARA [Concomitant]
     Active Substance: SARILUMAB
     Dosage: UNK
  629. KEVZARA [Concomitant]
     Active Substance: SARILUMAB
  630. KEVZARA [Concomitant]
     Active Substance: SARILUMAB
     Dosage: UNK
  631. KEVZARA [Concomitant]
     Active Substance: SARILUMAB
  632. ARAVA [Concomitant]
     Active Substance: LEFLUNOMIDE
     Indication: Product used for unknown indication
     Dosage: UNK
  633. ARAVA [Concomitant]
     Active Substance: LEFLUNOMIDE
  634. ARAVA [Concomitant]
     Active Substance: LEFLUNOMIDE
  635. ARAVA [Concomitant]
     Active Substance: LEFLUNOMIDE
  636. ARAVA [Concomitant]
     Active Substance: LEFLUNOMIDE
  637. ARAVA [Concomitant]
     Active Substance: LEFLUNOMIDE
  638. METHOTREXATE [Concomitant]
     Active Substance: METHOTREXATE
     Indication: Product used for unknown indication
  639. METHOTREXATE [Concomitant]
     Active Substance: METHOTREXATE
     Dosage: UNK UNK, QD
  640. METHOTREXATE [Concomitant]
     Active Substance: METHOTREXATE
     Dosage: UNK
  641. METHOTREXATE [Concomitant]
     Active Substance: METHOTREXATE
     Dosage: 25 MILLIGRAM
  642. METHOTREXATE [Concomitant]
     Active Substance: METHOTREXATE
  643. METHOTREXATE [Concomitant]
     Active Substance: METHOTREXATE
  644. METHOTREXATE [Concomitant]
     Active Substance: METHOTREXATE
  645. METHOTREXATE [Concomitant]
     Active Substance: METHOTREXATE
  646. METHOTREXATE [Concomitant]
     Active Substance: METHOTREXATE
  647. METHOTREXATE [Concomitant]
     Active Substance: METHOTREXATE
  648. METHOTREXATE [Concomitant]
     Active Substance: METHOTREXATE
  649. METHOTREXATE [Concomitant]
     Active Substance: METHOTREXATE
  650. METHOTREXATE [Concomitant]
     Active Substance: METHOTREXATE
  651. METHOTREXATE [Concomitant]
     Active Substance: METHOTREXATE
  652. METHOTREXATE [Concomitant]
     Active Substance: METHOTREXATE
  653. METHOTREXATE SODIUM [Concomitant]
     Active Substance: METHOTREXATE SODIUM
     Indication: Product used for unknown indication
     Dates: start: 2006, end: 2016
  654. METHOTREXATE SODIUM [Concomitant]
     Active Substance: METHOTREXATE SODIUM
  655. METHOTREXATE SODIUM [Concomitant]
     Active Substance: METHOTREXATE SODIUM
     Dosage: 25 MILLIGRAM
  656. METHOTREXATE SODIUM [Concomitant]
     Active Substance: METHOTREXATE SODIUM
     Dosage: 25 MILLIGRAM
  657. METHOTREXATE SODIUM [Concomitant]
     Active Substance: METHOTREXATE SODIUM
     Dosage: UNK
  658. METHOTREXATE SODIUM [Concomitant]
     Active Substance: METHOTREXATE SODIUM
     Dosage: UNK
  659. METHOTREXATE SODIUM [Concomitant]
     Active Substance: METHOTREXATE SODIUM
  660. METHOTREXATE SODIUM [Concomitant]
     Active Substance: METHOTREXATE SODIUM
  661. METHOTREXATE SODIUM [Concomitant]
     Active Substance: METHOTREXATE SODIUM
  662. METHOTREXATE SODIUM [Concomitant]
     Active Substance: METHOTREXATE SODIUM
  663. METHOTREXATE SODIUM [Concomitant]
     Active Substance: METHOTREXATE SODIUM
  664. METHOTREXATE SODIUM [Concomitant]
     Active Substance: METHOTREXATE SODIUM
  665. METHOTREXATE SODIUM [Concomitant]
     Active Substance: METHOTREXATE SODIUM
  666. METHOTREXATE SODIUM [Concomitant]
     Active Substance: METHOTREXATE SODIUM
  667. METHOTREXATE SODIUM [Concomitant]
     Active Substance: METHOTREXATE SODIUM
  668. METHOTREXATE SODIUM [Concomitant]
     Active Substance: METHOTREXATE SODIUM
  669. METHOTREXATE SODIUM [Concomitant]
     Active Substance: METHOTREXATE SODIUM
  670. SULFATHALIDINE [Concomitant]
     Active Substance: PHTHALYLSULFATHIAZOLE
     Indication: Product used for unknown indication
     Dosage: UNK
  671. PREDNISONE [Concomitant]
     Active Substance: PREDNISONE
     Indication: Product used for unknown indication
     Dosage: UNK
  672. PREDNISONE [Concomitant]
     Active Substance: PREDNISONE
     Dosage: 1 MILLIGRAM
  673. PREDNISONE [Concomitant]
     Active Substance: PREDNISONE
     Dosage: 40 MILLIGRAM
  674. PREDNISONE [Concomitant]
     Active Substance: PREDNISONE
  675. PREDNISONE [Concomitant]
     Active Substance: PREDNISONE
  676. PREDNISONE [Concomitant]
     Active Substance: PREDNISONE
  677. PREDNISONE [Concomitant]
     Active Substance: PREDNISONE
     Indication: Product used for unknown indication
  678. PREDNISONE [Concomitant]
     Active Substance: PREDNISONE
  679. PSEUDOEPHEDRINE HYDROCHLORIDE [Concomitant]
     Active Substance: PSEUDOEPHEDRINE HYDROCHLORIDE
     Indication: Product used for unknown indication
     Dosage: UNK
  680. PSEUDOEPHEDRINE HYDROCHLORIDE [Concomitant]
     Active Substance: PSEUDOEPHEDRINE HYDROCHLORIDE
  681. PSEUDOEPHEDRINE HYDROCHLORIDE [Concomitant]
     Active Substance: PSEUDOEPHEDRINE HYDROCHLORIDE
  682. PSEUDOEPHEDRINE HYDROCHLORIDE [Concomitant]
     Active Substance: PSEUDOEPHEDRINE HYDROCHLORIDE
  683. PSEUDOEPHEDRINE HYDROCHLORIDE [Concomitant]
     Active Substance: PSEUDOEPHEDRINE HYDROCHLORIDE
  684. PSEUDOEPHEDRINE HYDROCHLORIDE [Concomitant]
     Active Substance: PSEUDOEPHEDRINE HYDROCHLORIDE
  685. PSEUDOEPHEDRINE HYDROCHLORIDE [Concomitant]
     Active Substance: PSEUDOEPHEDRINE HYDROCHLORIDE
  686. PSEUDOEPHEDRINE HYDROCHLORIDE [Concomitant]
     Active Substance: PSEUDOEPHEDRINE HYDROCHLORIDE
  687. PSEUDOEPHEDRINE HYDROCHLORIDE [Concomitant]
     Active Substance: PSEUDOEPHEDRINE HYDROCHLORIDE
  688. PSEUDOEPHEDRINE HYDROCHLORIDE [Concomitant]
     Active Substance: PSEUDOEPHEDRINE HYDROCHLORIDE
  689. RITUXAN [Concomitant]
     Active Substance: RITUXIMAB
     Indication: Product used for unknown indication
  690. RITUXAN [Concomitant]
     Active Substance: RITUXIMAB
     Dosage: SOLN INTRAVENOUS
  691. RITUXIMAB [Concomitant]
     Active Substance: RITUXIMAB
     Indication: Product used for unknown indication
     Dosage: UNK
  692. RITUXIMAB [Concomitant]
     Active Substance: RITUXIMAB
     Dosage: UNK
  693. RITUXIMAB [Concomitant]
     Active Substance: RITUXIMAB
  694. RITUXIMAB [Concomitant]
     Active Substance: RITUXIMAB
  695. RITUXIMAB [Concomitant]
     Active Substance: RITUXIMAB
  696. RITUXIMAB [Concomitant]
     Active Substance: RITUXIMAB
  697. RITUXIMAB [Concomitant]
     Active Substance: RITUXIMAB
  698. RITUXIMAB [Concomitant]
     Active Substance: RITUXIMAB
  699. RITUXIMAB [Concomitant]
     Active Substance: RITUXIMAB
  700. RITUXIMAB [Concomitant]
     Active Substance: RITUXIMAB
  701. RITUXIMAB [Concomitant]
     Active Substance: RITUXIMAB
  702. RITUXIMAB [Concomitant]
     Active Substance: RITUXIMAB
  703. RITUXIMAB [Concomitant]
     Active Substance: RITUXIMAB
  704. RITUXIMAB [Concomitant]
     Active Substance: RITUXIMAB
  705. RITUXIMAB [Concomitant]
     Active Substance: RITUXIMAB
  706. RITUXIMAB [Concomitant]
     Active Substance: RITUXIMAB
  707. RITUXIMAB [Concomitant]
     Active Substance: RITUXIMAB
  708. SARILUMAB [Concomitant]
     Active Substance: SARILUMAB
     Indication: Product used for unknown indication
  709. STELARA [Concomitant]
     Active Substance: USTEKINUMAB
     Indication: Product used for unknown indication
     Dosage: UNK
  710. STELARA [Concomitant]
     Active Substance: USTEKINUMAB
     Dosage: 45 MILLIGRAM
  711. STELARA [Concomitant]
     Active Substance: USTEKINUMAB
  712. STELARA [Concomitant]
     Active Substance: USTEKINUMAB
  713. STELARA [Concomitant]
     Active Substance: USTEKINUMAB
     Dosage: SOLUTION SUBCUTANEOUS
  714. STELARA [Concomitant]
     Active Substance: USTEKINUMAB
     Dosage: SOLUTION SUBCUTANEOUS
  715. STELARA [Concomitant]
     Active Substance: USTEKINUMAB
  716. STELARA [Concomitant]
     Active Substance: USTEKINUMAB
     Dosage: SOLUTION SUBCUTANEOUS
  717. STELARA [Concomitant]
     Active Substance: USTEKINUMAB
  718. STELARA [Concomitant]
     Active Substance: USTEKINUMAB
  719. STELARA [Concomitant]
     Active Substance: USTEKINUMAB
     Dosage: SOLUTION SUBCUTANEOUS
  720. STELARA [Concomitant]
     Active Substance: USTEKINUMAB
     Dosage: SOLUTION SUBCUTANEOUS
  721. SULFASALAZINE [Concomitant]
     Active Substance: SULFASALAZINE
     Indication: Product used for unknown indication
     Dates: start: 2006, end: 2007
  722. SULFASALAZINE [Concomitant]
     Active Substance: SULFASALAZINE
  723. SULFASALAZINE [Concomitant]
     Active Substance: SULFASALAZINE
  724. SULFASALAZINE [Concomitant]
     Active Substance: SULFASALAZINE
  725. SULFASALAZINE [Concomitant]
     Active Substance: SULFASALAZINE
  726. SULFASALAZINE [Concomitant]
     Active Substance: SULFASALAZINE
     Dosage: 500 MILLIGRAM
  727. SULFASALAZINE [Concomitant]
     Active Substance: SULFASALAZINE
     Dosage: 1000 MILLIGRAM, BID
  728. SULFASALAZINE [Concomitant]
     Active Substance: SULFASALAZINE
     Dosage: UNK
  729. SULFASALAZINE [Concomitant]
     Active Substance: SULFASALAZINE
     Dosage: 1 DOSAGE FORM
  730. SULFASALAZINE [Concomitant]
     Active Substance: SULFASALAZINE
  731. SULFASALAZINE [Concomitant]
     Active Substance: SULFASALAZINE
  732. SULFASALAZINE [Concomitant]
     Active Substance: SULFASALAZINE
  733. SULFASALAZINE [Concomitant]
     Active Substance: SULFASALAZINE
  734. SULFASALAZINE [Concomitant]
     Active Substance: SULFASALAZINE
  735. SULFASALAZINE [Concomitant]
     Active Substance: SULFASALAZINE
  736. SULFASALAZINE [Concomitant]
     Active Substance: SULFASALAZINE
  737. SULFASALAZINE [Concomitant]
     Active Substance: SULFASALAZINE
  738. SULFASALAZINE [Concomitant]
     Active Substance: SULFASALAZINE
  739. SULFASALAZINE [Concomitant]
     Active Substance: SULFASALAZINE
  740. SULFASALAZINE [Concomitant]
     Active Substance: SULFASALAZINE
  741. SULFASALAZINE [Concomitant]
     Active Substance: SULFASALAZINE
  742. SULFASALAZINE [Concomitant]
     Active Substance: SULFASALAZINE
  743. SULFASALAZINE [Concomitant]
     Active Substance: SULFASALAZINE
  744. SULFASALAZINE [Concomitant]
     Active Substance: SULFASALAZINE
  745. SULFASALAZINE [Concomitant]
     Active Substance: SULFASALAZINE
  746. SULFASALAZINE [Concomitant]
     Active Substance: SULFASALAZINE
  747. SULFASALAZINE [Concomitant]
     Active Substance: SULFASALAZINE
  748. SULFASALAZINE [Concomitant]
     Active Substance: SULFASALAZINE
  749. SULFASALAZINE [Concomitant]
     Active Substance: SULFASALAZINE
  750. SULFASALAZINE [Concomitant]
     Active Substance: SULFASALAZINE
  751. SULFASALAZINE [Concomitant]
     Active Substance: SULFASALAZINE
  752. SULFASALAZINE [Concomitant]
     Active Substance: SULFASALAZINE
  753. TOCILIZUMAB [Concomitant]
     Active Substance: TOCILIZUMAB
     Indication: Product used for unknown indication
     Dosage: UNK
  754. TOCILIZUMAB [Concomitant]
     Active Substance: TOCILIZUMAB
     Dosage: UNK
  755. TOCILIZUMAB [Concomitant]
     Active Substance: TOCILIZUMAB
  756. TOCILIZUMAB [Concomitant]
     Active Substance: TOCILIZUMAB
  757. TOCILIZUMAB [Concomitant]
     Active Substance: TOCILIZUMAB
     Dosage: UNK
  758. TOFACITINIB CITRATE [Concomitant]
     Active Substance: TOFACITINIB CITRATE
     Indication: Product used for unknown indication
     Dosage: UNK
  759. TOFACITINIB CITRATE [Concomitant]
     Active Substance: TOFACITINIB CITRATE
  760. TOFACITINIB CITRATE [Concomitant]
     Active Substance: TOFACITINIB CITRATE
  761. TOFACITINIB CITRATE [Concomitant]
     Active Substance: TOFACITINIB CITRATE
  762. TOFACITINIB CITRATE [Concomitant]
     Active Substance: TOFACITINIB CITRATE
  763. ALENDRONIC ACID [Concomitant]
     Active Substance: ALENDRONIC ACID
     Indication: Product used for unknown indication
  764. ALENDRONIC ACID [Concomitant]
     Active Substance: ALENDRONIC ACID
  765. ALENDRONIC ACID [Concomitant]
     Active Substance: ALENDRONIC ACID
  766. ALENDRONIC ACID [Concomitant]
     Active Substance: ALENDRONIC ACID
  767. ALENDRONIC ACID [Concomitant]
     Active Substance: ALENDRONIC ACID
  768. ALENDRONIC ACID [Concomitant]
     Active Substance: ALENDRONIC ACID
  769. DICLOFENAC POTASSIUM [Concomitant]
     Active Substance: DICLOFENAC POTASSIUM
     Indication: Product used for unknown indication
  770. DICLOFENAC POTASSIUM [Concomitant]
     Active Substance: DICLOFENAC POTASSIUM
  771. DICLOFENAC POTASSIUM [Concomitant]
     Active Substance: DICLOFENAC POTASSIUM
  772. DICLOFENAC POTASSIUM [Concomitant]
     Active Substance: DICLOFENAC POTASSIUM
  773. DICLOFENAC POTASSIUM [Concomitant]
     Active Substance: DICLOFENAC POTASSIUM
  774. DICLOFENAC POTASSIUM [Concomitant]
     Active Substance: DICLOFENAC POTASSIUM
  775. DICLOFENAC POTASSIUM [Concomitant]
     Active Substance: DICLOFENAC POTASSIUM
  776. TOFACITINIB [Concomitant]
     Active Substance: TOFACITINIB
     Indication: Product used for unknown indication
  777. DOXYCYCLINE [Concomitant]
     Active Substance: DOXYCYCLINE
     Indication: Product used for unknown indication
     Dosage: 40 MILLIGRAM
  778. FLUMETHASONE PIVALATE [Concomitant]
     Active Substance: FLUMETHASONE PIVALATE
     Indication: Product used for unknown indication
  779. FLUMETHASONE PIVALATE [Concomitant]
     Active Substance: FLUMETHASONE PIVALATE
  780. FLUMETHASONE PIVALATE [Concomitant]
     Active Substance: FLUMETHASONE PIVALATE
  781. LYRICA [Concomitant]
     Active Substance: PREGABALIN
     Indication: Product used for unknown indication
  782. MYCOPHENOLATE MOFETIL [Concomitant]
     Active Substance: MYCOPHENOLATE MOFETIL
     Indication: Product used for unknown indication
  783. OTEZLA [Concomitant]
     Active Substance: APREMILAST
     Indication: Product used for unknown indication
  784. OTEZLA [Concomitant]
     Active Substance: APREMILAST
  785. OTEZLA [Concomitant]
     Active Substance: APREMILAST
  786. OTEZLA [Concomitant]
     Active Substance: APREMILAST
  787. CETIRIZINE HYDROCHLORIDE\PSEUDOEPHEDRINE HYDROCHLORIDE [Concomitant]
     Active Substance: CETIRIZINE HYDROCHLORIDE\PSEUDOEPHEDRINE HYDROCHLORIDE
     Indication: Product used for unknown indication
  788. CETIRIZINE HYDROCHLORIDE\PSEUDOEPHEDRINE HYDROCHLORIDE [Concomitant]
     Active Substance: CETIRIZINE HYDROCHLORIDE\PSEUDOEPHEDRINE HYDROCHLORIDE
     Dosage: 25 MILLIGRAM
  789. CETIRIZINE HYDROCHLORIDE\PSEUDOEPHEDRINE HYDROCHLORIDE [Concomitant]
     Active Substance: CETIRIZINE HYDROCHLORIDE\PSEUDOEPHEDRINE HYDROCHLORIDE
     Dosage: UNK
  790. CETIRIZINE HYDROCHLORIDE\PSEUDOEPHEDRINE HYDROCHLORIDE [Concomitant]
     Active Substance: CETIRIZINE HYDROCHLORIDE\PSEUDOEPHEDRINE HYDROCHLORIDE
  791. CETIRIZINE HYDROCHLORIDE\PSEUDOEPHEDRINE HYDROCHLORIDE [Concomitant]
     Active Substance: CETIRIZINE HYDROCHLORIDE\PSEUDOEPHEDRINE HYDROCHLORIDE
  792. CETIRIZINE HYDROCHLORIDE\PSEUDOEPHEDRINE HYDROCHLORIDE [Concomitant]
     Active Substance: CETIRIZINE HYDROCHLORIDE\PSEUDOEPHEDRINE HYDROCHLORIDE
  793. CETIRIZINE HYDROCHLORIDE\PSEUDOEPHEDRINE HYDROCHLORIDE [Concomitant]
     Active Substance: CETIRIZINE HYDROCHLORIDE\PSEUDOEPHEDRINE HYDROCHLORIDE
  794. CETIRIZINE HYDROCHLORIDE\PSEUDOEPHEDRINE HYDROCHLORIDE [Concomitant]
     Active Substance: CETIRIZINE HYDROCHLORIDE\PSEUDOEPHEDRINE HYDROCHLORIDE
     Dosage: TABLET (EXTENDED- RELEASE)
  795. CETIRIZINE HYDROCHLORIDE\PSEUDOEPHEDRINE HYDROCHLORIDE [Concomitant]
     Active Substance: CETIRIZINE HYDROCHLORIDE\PSEUDOEPHEDRINE HYDROCHLORIDE
     Dosage: TABLET (EXTENDED- RELEASE)
  796. CETIRIZINE HYDROCHLORIDE\PSEUDOEPHEDRINE HYDROCHLORIDE [Concomitant]
     Active Substance: CETIRIZINE HYDROCHLORIDE\PSEUDOEPHEDRINE HYDROCHLORIDE
     Dosage: TABLET (EXTENDED- RELEASE)
  797. CETIRIZINE HYDROCHLORIDE\PSEUDOEPHEDRINE HYDROCHLORIDE [Concomitant]
     Active Substance: CETIRIZINE HYDROCHLORIDE\PSEUDOEPHEDRINE HYDROCHLORIDE
     Dosage: TABLET (EXTENDED- RELEASE)
  798. ACETAMINOPHEN\PROPOXYPHENE HYDROCHLORIDE [Concomitant]
     Active Substance: ACETAMINOPHEN\PROPOXYPHENE HYDROCHLORIDE
     Indication: Product used for unknown indication
  799. PREDNISONE [Concomitant]
     Active Substance: PREDNISONE
     Indication: Product used for unknown indication
  800. PREDNISONE [Concomitant]
     Active Substance: PREDNISONE
  801. PREDNISONE [Concomitant]
     Active Substance: PREDNISONE
  802. PREDNISONE [Concomitant]
     Active Substance: PREDNISONE
  803. PREDNISONE [Concomitant]
     Active Substance: PREDNISONE
  804. PREDNISONE [Concomitant]
     Active Substance: PREDNISONE
  805. APREMILAST [Concomitant]
     Active Substance: APREMILAST
     Indication: Product used for unknown indication
  806. APREMILAST [Concomitant]
     Active Substance: APREMILAST
  807. APREMILAST [Concomitant]
     Active Substance: APREMILAST
  808. CIMZIA [Concomitant]
     Active Substance: CERTOLIZUMAB PEGOL
     Indication: Product used for unknown indication
  809. CIMZIA [Concomitant]
     Active Substance: CERTOLIZUMAB PEGOL
  810. CIMZIA [Concomitant]
     Active Substance: CERTOLIZUMAB PEGOL
  811. CIMZIA [Concomitant]
     Active Substance: CERTOLIZUMAB PEGOL
  812. CIMZIA [Concomitant]
     Active Substance: CERTOLIZUMAB PEGOL
  813. CIMZIA [Concomitant]
     Active Substance: CERTOLIZUMAB PEGOL
  814. CIMZIA [Concomitant]
     Active Substance: CERTOLIZUMAB PEGOL
  815. CIMZIA [Concomitant]
     Active Substance: CERTOLIZUMAB PEGOL
  816. CIMZIA [Concomitant]
     Active Substance: CERTOLIZUMAB PEGOL
  817. CIMZIA [Concomitant]
     Active Substance: CERTOLIZUMAB PEGOL
  818. CIMZIA [Concomitant]
     Active Substance: CERTOLIZUMAB PEGOL
  819. CORTISONE (HYDROCORTISONE) [Concomitant]
     Active Substance: HYDROCORTISONE
     Indication: Product used for unknown indication
  820. CORTISONE (HYDROCORTISONE) [Concomitant]
     Active Substance: HYDROCORTISONE
  821. CORTISONE (HYDROCORTISONE) [Concomitant]
     Active Substance: HYDROCORTISONE
  822. CORTISONE (HYDROCORTISONE) [Concomitant]
     Active Substance: HYDROCORTISONE
  823. CORTISONE (HYDROCORTISONE) [Concomitant]
     Active Substance: HYDROCORTISONE
  824. CORTISONE (HYDROCORTISONE) [Concomitant]
     Active Substance: HYDROCORTISONE
  825. CORTISONE (HYDROCORTISONE) [Concomitant]
     Active Substance: HYDROCORTISONE
  826. CORTISONE (HYDROCORTISONE) [Concomitant]
     Active Substance: HYDROCORTISONE
  827. CORTISONE (HYDROCORTISONE) [Concomitant]
     Active Substance: HYDROCORTISONE
  828. CORTISONE (HYDROCORTISONE) [Concomitant]
     Active Substance: HYDROCORTISONE
  829. CORTISONE (HYDROCORTISONE) [Concomitant]
     Active Substance: HYDROCORTISONE
  830. CORTISONE (HYDROCORTISONE) [Concomitant]
     Active Substance: HYDROCORTISONE
  831. CORTISONE (HYDROCORTISONE) [Concomitant]
     Active Substance: HYDROCORTISONE
  832. CORTISONE (HYDROCORTISONE) [Concomitant]
     Active Substance: HYDROCORTISONE
  833. CORTISONE (HYDROCORTISONE) [Concomitant]
     Active Substance: HYDROCORTISONE
  834. HYDROCORTISONE [Concomitant]
     Active Substance: HYDROCORTISONE
     Indication: Product used for unknown indication
  835. HYDROCORTISONE [Concomitant]
     Active Substance: HYDROCORTISONE
  836. HYDROCORTISONE [Concomitant]
     Active Substance: HYDROCORTISONE
  837. HYDROCORTISONE [Concomitant]
     Active Substance: HYDROCORTISONE
  838. HYDROCORTISONE [Concomitant]
     Active Substance: HYDROCORTISONE
  839. INFLIXIMAB [Concomitant]
     Active Substance: INFLIXIMAB
     Indication: Product used for unknown indication
  840. INFLIXIMAB [Concomitant]
     Active Substance: INFLIXIMAB
  841. INFLIXIMAB [Concomitant]
     Active Substance: INFLIXIMAB
  842. INFLIXIMAB [Concomitant]
     Active Substance: INFLIXIMAB
  843. INFLIXIMAB [Concomitant]
     Active Substance: INFLIXIMAB
  844. INFLIXIMAB [Concomitant]
     Active Substance: INFLIXIMAB
  845. INFLIXIMAB [Concomitant]
     Active Substance: INFLIXIMAB
  846. INFLIXIMAB [Concomitant]
     Active Substance: INFLIXIMAB
  847. INFLIXIMAB [Concomitant]
     Active Substance: INFLIXIMAB
  848. INFLIXIMAB [Concomitant]
     Active Substance: INFLIXIMAB
  849. SULFASALAZINE [Concomitant]
     Active Substance: SULFASALAZINE
     Indication: Product used for unknown indication
  850. SULFASALAZINE [Concomitant]
     Active Substance: SULFASALAZINE
  851. SULFASALAZINE [Concomitant]
     Active Substance: SULFASALAZINE
  852. SULFASALAZINE [Concomitant]
     Active Substance: SULFASALAZINE
  853. SULFASALAZINE [Concomitant]
     Active Substance: SULFASALAZINE
  854. SULFASALAZINE [Concomitant]
     Active Substance: SULFASALAZINE
  855. SULFASALAZINE [Concomitant]
     Active Substance: SULFASALAZINE
  856. TOCILIZUMAB [Concomitant]
     Active Substance: TOCILIZUMAB
     Indication: Product used for unknown indication
  857. TOCILIZUMAB [Concomitant]
     Active Substance: TOCILIZUMAB
  858. TOCILIZUMAB [Concomitant]
     Active Substance: TOCILIZUMAB
  859. TOCILIZUMAB [Concomitant]
     Active Substance: TOCILIZUMAB
  860. TOFACITINIB [Concomitant]
     Active Substance: TOFACITINIB
     Indication: Product used for unknown indication
  861. TOFACITINIB [Concomitant]
     Active Substance: TOFACITINIB
  862. TOFACITINIB [Concomitant]
     Active Substance: TOFACITINIB
  863. TOFACITINIB [Concomitant]
     Active Substance: TOFACITINIB
  864. TOFACITINIB [Concomitant]
     Active Substance: TOFACITINIB
  865. TOFACITINIB [Concomitant]
     Active Substance: TOFACITINIB
  866. USTEKINUMAB [Concomitant]
     Active Substance: USTEKINUMAB
     Indication: Product used for unknown indication
  867. USTEKINUMAB [Concomitant]
     Active Substance: USTEKINUMAB
  868. USTEKINUMAB [Concomitant]
     Active Substance: USTEKINUMAB
  869. USTEKINUMAB [Concomitant]
     Active Substance: USTEKINUMAB
  870. USTEKINUMAB [Concomitant]
     Active Substance: USTEKINUMAB
  871. USTEKINUMAB [Concomitant]
     Active Substance: USTEKINUMAB
  872. ZYRTEC-D [Concomitant]
     Active Substance: CETIRIZINE HYDROCHLORIDE\PSEUDOEPHEDRINE HYDROCHLORIDE
     Indication: Product used for unknown indication
  873. SYNTHROID [Concomitant]
     Active Substance: LEVOTHYROXINE SODIUM
     Indication: Product used for unknown indication
  874. ACETAMINOPHEN [Concomitant]
     Active Substance: ACETAMINOPHEN
     Indication: Product used for unknown indication
  875. XELJANZ [Concomitant]
     Active Substance: TOFACITINIB CITRATE
     Indication: Product used for unknown indication
  876. XELJANZ [Concomitant]
     Active Substance: TOFACITINIB CITRATE
  877. DICLOFENAC [Concomitant]
     Active Substance: DICLOFENAC
     Indication: Product used for unknown indication
  878. IBUPROFEN [Concomitant]
     Active Substance: IBUPROFEN
     Indication: Product used for unknown indication
  879. LEFLUNOMIDE [Concomitant]
     Active Substance: LEFLUNOMIDE
     Indication: Product used for unknown indication
     Dosage: UNK
  880. LEFLUNOMIDE [Concomitant]
     Active Substance: LEFLUNOMIDE
     Dosage: UNK
  881. LEFLUNOMIDE [Concomitant]
     Active Substance: LEFLUNOMIDE
  882. LEFLUNOMIDE [Concomitant]
     Active Substance: LEFLUNOMIDE
  883. LEFLUNOMIDE [Concomitant]
     Active Substance: LEFLUNOMIDE
  884. LEFLUNOMIDE [Concomitant]
     Active Substance: LEFLUNOMIDE
  885. LEFLUNOMIDE [Concomitant]
     Active Substance: LEFLUNOMIDE
  886. LEFLUNOMIDE [Concomitant]
     Active Substance: LEFLUNOMIDE
  887. LEFLUNOMIDE [Concomitant]
     Active Substance: LEFLUNOMIDE
  888. LEFLUNOMIDE [Concomitant]
     Active Substance: LEFLUNOMIDE
  889. LEFLUNOMIDE [Concomitant]
     Active Substance: LEFLUNOMIDE
     Dosage: 1 FEMTOGRAM
  890. LISINOPRIL [Concomitant]
     Active Substance: LISINOPRIL
     Indication: Product used for unknown indication
  891. PREDNISOLONE [Concomitant]
     Active Substance: PREDNISOLONE
     Indication: Product used for unknown indication
  892. SULFASALAZINE [Concomitant]
     Active Substance: SULFASALAZINE
     Indication: Product used for unknown indication
  893. TOFACITINIB CITRATE [Concomitant]
     Active Substance: TOFACITINIB CITRATE
     Indication: Product used for unknown indication
  894. XELJANZ [Concomitant]
     Active Substance: TOFACITINIB CITRATE
     Indication: Product used for unknown indication
  895. VITAMIN D3 [Concomitant]
     Active Substance: CHOLECALCIFEROL
     Indication: Product used for unknown indication
  896. VITAMIN D3 [Concomitant]
     Active Substance: CHOLECALCIFEROL
  897. ACETAMINOPHEN [Concomitant]
     Active Substance: ACETAMINOPHEN
     Indication: Product used for unknown indication
  898. ACETAMINOPHEN [Concomitant]
     Active Substance: ACETAMINOPHEN
  899. ACETAMINOPHEN [Concomitant]
     Active Substance: ACETAMINOPHEN
  900. ACETAMINOPHEN [Concomitant]
     Active Substance: ACETAMINOPHEN
  901. CALCIUM [Concomitant]
     Active Substance: CALCIUM
     Indication: Product used for unknown indication
     Dosage: UNK
  902. CALCIUM [Concomitant]
     Active Substance: CALCIUM
  903. CALCIUM GLUCONATE [Concomitant]
     Active Substance: CALCIUM GLUCONATE
     Indication: Product used for unknown indication
  904. CALCIUM GLUCONATE [Concomitant]
     Active Substance: CALCIUM GLUCONATE
  905. PANTOPRAZOLE [Concomitant]
     Active Substance: PANTOPRAZOLE
     Indication: Product used for unknown indication
     Dosage: UNK
  906. QUETIAPINE [Concomitant]
     Active Substance: QUETIAPINE
     Indication: Product used for unknown indication
     Dosage: UNK
  907. RAMIPRIL [Concomitant]
     Active Substance: RAMIPRIL
     Indication: Product used for unknown indication
  908. RAMIPRIL [Concomitant]
     Active Substance: RAMIPRIL
  909. ACETAMINOPHEN AND CODEINE [Concomitant]
     Active Substance: ACETAMINOPHEN\CODEINE PHOSPHATE
     Indication: Product used for unknown indication
  910. ACETAMINOPHEN AND CODEINE [Concomitant]
     Active Substance: ACETAMINOPHEN\CODEINE PHOSPHATE
  911. CAFFEINE [Concomitant]
     Active Substance: CAFFEINE
     Indication: Product used for unknown indication
  912. ACETAMINOPHEN\PROPOXYPHENE HYDROCHLORIDE [Concomitant]
     Active Substance: ACETAMINOPHEN\PROPOXYPHENE HYDROCHLORIDE
     Indication: Product used for unknown indication
  913. ACETAMINOPHEN\PROPOXYPHENE HYDROCHLORIDE [Concomitant]
     Active Substance: ACETAMINOPHEN\PROPOXYPHENE HYDROCHLORIDE
     Indication: Product used for unknown indication
  914. ACETAMINOPHEN\CAFFEINE [Concomitant]
     Active Substance: ACETAMINOPHEN\CAFFEINE
     Indication: Product used for unknown indication
  915. ACETAMINOPHEN\CAFFEINE\CODEINE PHOSPHATE [Concomitant]
     Active Substance: ACETAMINOPHEN\CAFFEINE\CODEINE PHOSPHATE
     Indication: Product used for unknown indication
  916. CAFFEINE CITRATE [Concomitant]
     Active Substance: CAFFEINE CITRATE
     Indication: Product used for unknown indication
  917. CHOLECALCIFEROL [Concomitant]
     Active Substance: CHOLECALCIFEROL
     Indication: Product used for unknown indication
  918. CHOLECALCIFEROL [Concomitant]
     Active Substance: CHOLECALCIFEROL
  919. CHOLECALCIFEROL [Concomitant]
     Active Substance: CHOLECALCIFEROL
  920. ACETAMINOPHEN\CODEINE PHOSPHATE [Concomitant]
     Active Substance: ACETAMINOPHEN\CODEINE PHOSPHATE
     Indication: Product used for unknown indication
  921. MAGNESIUM [Concomitant]
     Active Substance: MAGNESIUM
     Indication: Product used for unknown indication
  922. MELOXICAM [Concomitant]
     Active Substance: MELOXICAM
     Indication: Product used for unknown indication
  923. PIROXICAM [Concomitant]
     Active Substance: PIROXICAM
     Indication: Product used for unknown indication
  924. PREDNISOLONE ACETATE [Concomitant]
     Active Substance: PREDNISOLONE ACETATE
     Indication: Product used for unknown indication
  925. PRINIVIL [Concomitant]
     Active Substance: LISINOPRIL
     Indication: Product used for unknown indication
  926. PRINIVIL [Concomitant]
     Active Substance: LISINOPRIL
  927. RISEDRONATE SODIUM [Concomitant]
     Active Substance: RISEDRONATE SODIUM
     Indication: Product used for unknown indication
  928. RISEDRONATE SODIUM [Concomitant]
     Active Substance: RISEDRONATE SODIUM
  929. SALAZOPYRINE [Concomitant]
     Active Substance: SULFASALAZINE
     Indication: Product used for unknown indication
  930. CELECOXIB [Concomitant]
     Active Substance: CELECOXIB
     Indication: Product used for unknown indication
  931. CELECOXIB [Concomitant]
     Active Substance: CELECOXIB
  932. CELECOXIB [Concomitant]
     Active Substance: CELECOXIB
  933. CELECOXIB [Concomitant]
     Active Substance: CELECOXIB
  934. CELECOXIB [Concomitant]
     Active Substance: CELECOXIB
  935. DICLOFENAC DIETHYLAMINE [Concomitant]
     Active Substance: DICLOFENAC DIETHYLAMINE
     Indication: Product used for unknown indication
  936. LEVOTHYROXINE SODIUM [Concomitant]
     Active Substance: LEVOTHYROXINE SODIUM
     Indication: Product used for unknown indication
  937. LISINOPRIL [Concomitant]
     Active Substance: LISINOPRIL
     Indication: Product used for unknown indication
  938. LISINOPRIL [Concomitant]
     Active Substance: LISINOPRIL
  939. PREGABALIN [Concomitant]
     Active Substance: PREGABALIN
     Indication: Product used for unknown indication
  940. ACETAMINOPHEN\CODEINE PHOSPHATE [Concomitant]
     Active Substance: ACETAMINOPHEN\CODEINE PHOSPHATE
     Indication: Product used for unknown indication
  941. DEXAMETHASONE [Concomitant]
     Active Substance: DEXAMETHASONE
     Indication: Product used for unknown indication
  942. QUETIAPINE FUMARATE [Concomitant]
     Active Substance: QUETIAPINE FUMARATE
     Indication: Product used for unknown indication
  943. QUETIAPINE FUMARATE [Concomitant]
     Active Substance: QUETIAPINE FUMARATE
  944. CETIRIZINE HYDROCHLORIDE\PHENYLEPHRINE HYDROCHLORIDE [Concomitant]
     Active Substance: CETIRIZINE HYDROCHLORIDE\PHENYLEPHRINE HYDROCHLORIDE
     Indication: Product used for unknown indication
  945. HYDROCORTISONE BUTYRATE [Concomitant]
     Active Substance: HYDROCORTISONE BUTYRATE
     Indication: Product used for unknown indication
  946. HYDROCORTISONE BUTYRATE [Concomitant]
     Active Substance: HYDROCORTISONE BUTYRATE
  947. HYDROCORTISONE BUTYRATE [Concomitant]
     Active Substance: HYDROCORTISONE BUTYRATE
  948. HYDROCORTISONE BUTYRATE [Concomitant]
     Active Substance: HYDROCORTISONE BUTYRATE
  949. HYDROCORTISONE BUTYRATE [Concomitant]
     Active Substance: HYDROCORTISONE BUTYRATE
  950. ACETAMINOPHEN\CAFFEINE\CODEINE PHOSPHATE [Concomitant]
     Active Substance: ACETAMINOPHEN\CAFFEINE\CODEINE PHOSPHATE
     Indication: Product used for unknown indication
  951. NAPROXEN [Concomitant]
     Active Substance: NAPROXEN
     Indication: Product used for unknown indication
  952. PANTOPRAZOLE [Concomitant]
     Active Substance: PANTOPRAZOLE
     Indication: Product used for unknown indication
  953. APREPITANT [Concomitant]
     Active Substance: APREPITANT
     Indication: Product used for unknown indication
  954. APREPITANT [Concomitant]
     Active Substance: APREPITANT
  955. CHLORAPREP [Concomitant]
     Active Substance: CHLORHEXIDINE GLUCONATE\ISOPROPYL ALCOHOL
     Indication: Product used for unknown indication
  956. CHLORAPREP [Concomitant]
     Active Substance: CHLORHEXIDINE GLUCONATE\ISOPROPYL ALCOHOL
  957. CHLORHEXIDINE [Concomitant]
     Active Substance: CHLORHEXIDINE
     Indication: Product used for unknown indication
  958. CHLORHEXIDINE [Concomitant]
     Active Substance: CHLORHEXIDINE
  959. CHLORHEXIDINE [Concomitant]
     Active Substance: CHLORHEXIDINE
  960. CHLORHEXIDINE [Concomitant]
     Active Substance: CHLORHEXIDINE
  961. CHLORHEXIDINE [Concomitant]
     Active Substance: CHLORHEXIDINE
  962. CHLORHEXIDINE [Concomitant]
     Active Substance: CHLORHEXIDINE
  963. CHLORHEXIDINE [Concomitant]
     Active Substance: CHLORHEXIDINE
  964. CHLORHEXIDINE [Concomitant]
     Active Substance: CHLORHEXIDINE
  965. CHLORHEXIDINE [Concomitant]
     Active Substance: CHLORHEXIDINE
  966. CHLORHEXIDINE [Concomitant]
     Active Substance: CHLORHEXIDINE
  967. CHLORHEXIDINE GLUCONATE [Concomitant]
     Active Substance: CHLORHEXIDINE GLUCONATE
     Indication: Product used for unknown indication
  968. CHLORHEXIDINE GLUCONATE [Concomitant]
     Active Substance: CHLORHEXIDINE GLUCONATE
  969. CHLORHEXIDINE GLUCONATE [Concomitant]
     Active Substance: CHLORHEXIDINE GLUCONATE
  970. HYDROCORTISONE SODIUM SUCCINATE [Concomitant]
     Active Substance: HYDROCORTISONE SODIUM SUCCINATE
     Indication: Product used for unknown indication
  971. HYDROCORTISONE SODIUM SUCCINATE [Concomitant]
     Active Substance: HYDROCORTISONE SODIUM SUCCINATE
  972. HYDROCORTISONE SODIUM SUCCINATE [Concomitant]
     Active Substance: HYDROCORTISONE SODIUM SUCCINATE
  973. HYDROCORTISONE SODIUM SUCCINATE [Concomitant]
     Active Substance: HYDROCORTISONE SODIUM SUCCINATE
  974. HYDROCORTISONE SODIUM SUCCINATE [Concomitant]
     Active Substance: HYDROCORTISONE SODIUM SUCCINATE
  975. HYDROCORTISONE SODIUM SUCCINATE [Concomitant]
     Active Substance: HYDROCORTISONE SODIUM SUCCINATE
  976. HYDROCORTISONE SODIUM SUCCINATE [Concomitant]
     Active Substance: HYDROCORTISONE SODIUM SUCCINATE
  977. HYDROCORTISONE SODIUM SUCCINATE [Concomitant]
     Active Substance: HYDROCORTISONE SODIUM SUCCINATE
  978. HYDROCORTISONE SODIUM SUCCINATE [Concomitant]
     Active Substance: HYDROCORTISONE SODIUM SUCCINATE
  979. ISOPROPYL ALCOHOL [Concomitant]
     Active Substance: ISOPROPYL ALCOHOL
     Indication: Product used for unknown indication
  980. ISOPROPYL ALCOHOL [Concomitant]
     Active Substance: ISOPROPYL ALCOHOL
  981. ISOPROPYL ALCOHOL [Concomitant]
     Active Substance: ISOPROPYL ALCOHOL
  982. ISOPROPYL ALCOHOL [Concomitant]
     Active Substance: ISOPROPYL ALCOHOL
  983. NEOMYCIN [Concomitant]
     Active Substance: NEOMYCIN
     Indication: Product used for unknown indication
  984. OXYCODONE [Concomitant]
     Active Substance: OXYCODONE
     Indication: Product used for unknown indication
  985. OXYCODONE [Concomitant]
     Active Substance: OXYCODONE
  986. OXYCODONE HYDROCHLORIDE [Concomitant]
     Active Substance: OXYCODONE HYDROCHLORIDE
     Indication: Product used for unknown indication
  987. OXYCODONE TEREPHTHALATE [Concomitant]
     Active Substance: OXYCODONE TEREPHTHALATE
     Indication: Product used for unknown indication
  988. OXYCODONE TEREPHTHALATE [Concomitant]
     Active Substance: OXYCODONE TEREPHTHALATE
  989. PERIOGARD [Concomitant]
     Active Substance: CHLORHEXIDINE GLUCONATE
     Indication: Product used for unknown indication
  990. PERIOGARD [Concomitant]
     Active Substance: CHLORHEXIDINE GLUCONATE
  991. PERIOGARD [Concomitant]
     Active Substance: CHLORHEXIDINE GLUCONATE
  992. PERIOGARD [Concomitant]
     Active Substance: CHLORHEXIDINE GLUCONATE
  993. PERIOGARD [Concomitant]
     Active Substance: CHLORHEXIDINE GLUCONATE
     Dosage: SOLUTION BUCCAL
  994. SULFAMETHOXAZOLE [Concomitant]
     Active Substance: SULFAMETHOXAZOLE
     Indication: Product used for unknown indication
  995. SULFAMETHOXAZOLE\TRIMETHOPRIM [Concomitant]
     Active Substance: SULFAMETHOXAZOLE\TRIMETHOPRIM
     Indication: Product used for unknown indication
  996. SULFAMETHOXAZOLE\TRIMETHOPRIM [Concomitant]
     Active Substance: SULFAMETHOXAZOLE\TRIMETHOPRIM
  997. SULFAMETHOXAZOLE\TRIMETHOPRIM [Concomitant]
     Active Substance: SULFAMETHOXAZOLE\TRIMETHOPRIM
  998. TRAMADOL HYDROCHLORIDE [Concomitant]
     Active Substance: TRAMADOL HYDROCHLORIDE
     Indication: Product used for unknown indication
  999. TYLENOL [Concomitant]
     Active Substance: ACETAMINOPHEN
     Indication: Product used for unknown indication
  1000. TYLENOL [Concomitant]
     Active Substance: ACETAMINOPHEN
  1001. TYLENOL [Concomitant]
     Active Substance: ACETAMINOPHEN
  1002. TYLENOL WITH CODEINE [Concomitant]
     Active Substance: ACETAMINOPHEN\CODEINE PHOSPHATE
     Indication: Product used for unknown indication
  1003. ZOPICLONE [Concomitant]
     Active Substance: ZOPICLONE
     Indication: Product used for unknown indication
  1004. MARVELON [Concomitant]
     Active Substance: DESOGESTREL\ETHINYL ESTRADIOL
     Indication: Product used for unknown indication
  1005. MARVELON [Concomitant]
     Active Substance: DESOGESTREL\ETHINYL ESTRADIOL
  1006. FOSAPREPITANT DIMEGLUMINE [Concomitant]
     Active Substance: FOSAPREPITANT DIMEGLUMINE
     Indication: Product used for unknown indication
  1007. DESOGESTREL\ETHINYL ESTRADIOL [Concomitant]
     Active Substance: DESOGESTREL\ETHINYL ESTRADIOL
     Indication: Product used for unknown indication
  1008. DESOGESTREL\ETHINYL ESTRADIOL [Concomitant]
     Active Substance: DESOGESTREL\ETHINYL ESTRADIOL
  1009. CALCIUM CARBONATE [Concomitant]
     Active Substance: CALCIUM CARBONATE
     Indication: Product used for unknown indication
  1010. ALENDRONATE SODIUM\CHOLECALCIFEROL [Concomitant]
     Active Substance: ALENDRONATE SODIUM\CHOLECALCIFEROL
     Indication: Product used for unknown indication
  1011. ALENDRONATE SODIUM\CHOLECALCIFEROL [Concomitant]
     Active Substance: ALENDRONATE SODIUM\CHOLECALCIFEROL
  1012. ACETAMINOPHEN\OXYCODONE HYDROCHLORIDE [Concomitant]
     Active Substance: ACETAMINOPHEN\OXYCODONE HYDROCHLORIDE
     Indication: Product used for unknown indication
  1013. APO-DICLO [Concomitant]
     Indication: Product used for unknown indication
  1014. APO-DICLO [Concomitant]
  1015. APO-DICLO [Concomitant]
  1016. APO-DICLO [Concomitant]
  1017. CALCIUM GLUBIONATE [Concomitant]
     Active Substance: CALCIUM GLUBIONATE
     Indication: Product used for unknown indication
  1018. DOXYCYCLINE HYCLATE [Concomitant]
     Active Substance: DOXYCYCLINE HYCLATE
     Indication: Product used for unknown indication
     Dosage: 40 MILLIGRAM
  1019. DOXYCYCLINE HYCLATE [Concomitant]
     Active Substance: DOXYCYCLINE HYCLATE
  1020. PANTOPRAZOLE SODIUM [Concomitant]
     Active Substance: PANTOPRAZOLE SODIUM
     Indication: Product used for unknown indication
  1021. PANTOPRAZOLE SODIUM [Concomitant]
     Active Substance: PANTOPRAZOLE SODIUM
  1022. PSEUDOEPHEDRINE [Concomitant]
     Active Substance: PSEUDOEPHEDRINE
     Indication: Product used for unknown indication
  1023. PSEUDOEPHEDRINE [Concomitant]
     Active Substance: PSEUDOEPHEDRINE
  1024. HYALURONIDASE (HUMAN RECOMBINANT)\RITUXIMAB [Concomitant]
     Active Substance: HYALURONIDASE (HUMAN RECOMBINANT)\RITUXIMAB
     Indication: Product used for unknown indication
  1025. DIETARY SUPPLEMENT\HERBALS [Concomitant]
     Active Substance: DIETARY SUPPLEMENT\HERBALS
     Indication: Product used for unknown indication
  1026. DIETARY SUPPLEMENT\HERBALS [Concomitant]
     Active Substance: DIETARY SUPPLEMENT\HERBALS
     Dosage: GLOBULES ORAL
  1027. VITAMIN C [Concomitant]
     Active Substance: ASCORBIC ACID
     Indication: Product used for unknown indication
  1028. VITAMIN C [Concomitant]
     Active Substance: ASCORBIC ACID
  1029. VITAMIN C [Concomitant]
     Active Substance: ASCORBIC ACID
  1030. VITAMIN C [Concomitant]
     Active Substance: ASCORBIC ACID
  1031. CALCIUM CHLORIDE [Concomitant]
     Active Substance: CALCIUM CHLORIDE
     Indication: Product used for unknown indication
  1032. PHENYLEPHRINE HYDROCHLORIDE [Concomitant]
     Active Substance: PHENYLEPHRINE HYDROCHLORIDE
     Indication: Product used for unknown indication
  1033. PHENYLEPHRINE HYDROCHLORIDE [Concomitant]
     Active Substance: PHENYLEPHRINE HYDROCHLORIDE
  1034. PHENYLEPHRINE HYDROCHLORIDE [Concomitant]
     Active Substance: PHENYLEPHRINE HYDROCHLORIDE
     Dosage: LIQUID INTRAMUSCULAR
  1035. CODEINE [Concomitant]
     Active Substance: CODEINE
     Indication: Product used for unknown indication
  1036. AZATHIOPRINE [Concomitant]
     Active Substance: AZATHIOPRINE
     Indication: Product used for unknown indication
  1037. CHLORHEXIDINE GLUCONATE\ISOPROPYL ALCOHOL [Concomitant]
     Active Substance: CHLORHEXIDINE GLUCONATE\ISOPROPYL ALCOHOL
     Indication: Product used for unknown indication
  1038. CHLORHEXIDINE GLUCONATE\ISOPROPYL ALCOHOL [Concomitant]
     Active Substance: CHLORHEXIDINE GLUCONATE\ISOPROPYL ALCOHOL
  1039. CHLORHEXIDINE GLUCONATE\ISOPROPYL ALCOHOL [Concomitant]
     Active Substance: CHLORHEXIDINE GLUCONATE\ISOPROPYL ALCOHOL
  1040. ACETAMINOPHEN AND CODEINE [Concomitant]
     Active Substance: ACETAMINOPHEN\CODEINE PHOSPHATE
     Indication: Product used for unknown indication
  1041. ACETAMINOPHEN AND CODEINE [Concomitant]
     Active Substance: ACETAMINOPHEN\CODEINE PHOSPHATE
  1042. TRAMADOL HYDROCHLORIDE [Concomitant]
     Active Substance: TRAMADOL HYDROCHLORIDE
     Indication: Product used for unknown indication
  1043. ATIVAN [Concomitant]
     Active Substance: LORAZEPAM
     Indication: Product used for unknown indication
  1044. DILTIAZEM [Concomitant]
     Active Substance: DILTIAZEM
     Indication: Product used for unknown indication
  1045. ERGOCALCIFEROL [Concomitant]
     Active Substance: ERGOCALCIFEROL
     Indication: Product used for unknown indication
  1046. ERYTHROMYCIN [Concomitant]
     Active Substance: ERYTHROMYCIN
     Indication: Product used for unknown indication
  1047. GLUCOSAMINE [Concomitant]
     Active Substance: GLUCOSAMINE
     Indication: Product used for unknown indication
  1048. DICLOFENAC DIETHYLAMINE [Concomitant]
     Active Substance: DICLOFENAC DIETHYLAMINE
     Indication: Product used for unknown indication
  1049. PANTOPRAZOLE SODIUM ANHYDROUS [Concomitant]
     Active Substance: PANTOPRAZOLE SODIUM ANHYDROUS
     Indication: Product used for unknown indication
  1050. PANTOPRAZOLE SODIUM ANHYDROUS [Concomitant]
     Active Substance: PANTOPRAZOLE SODIUM ANHYDROUS
  1051. BORAGE OIL [Concomitant]
     Active Substance: BORAGE OIL
     Indication: Product used for unknown indication
  1052. CALCIUM CARBONATE\CHOLECALCIFEROL [Concomitant]
     Active Substance: CALCIUM CARBONATE\CHOLECALCIFEROL
     Indication: Product used for unknown indication
  1053. ENTYVIO [Concomitant]
     Active Substance: VEDOLIZUMAB
     Indication: Product used for unknown indication
     Dosage: IV INFUSION
  1054. MESALAMINE [Concomitant]
     Active Substance: MESALAMINE
     Indication: Product used for unknown indication
     Dosage: IV INFUSION
  1055. RINVOQ [Concomitant]
     Active Substance: UPADACITINIB
     Indication: Product used for unknown indication
  1056. RINVOQ [Concomitant]
     Active Substance: UPADACITINIB
  1057. SOLU-MEDROL [Concomitant]
     Active Substance: METHYLPREDNISOLONE SODIUM SUCCINATE
     Indication: Product used for unknown indication
  1058. SULFATHIAZOLE [Concomitant]
     Active Substance: SULFATHIAZOLE
     Indication: Product used for unknown indication
  1059. DICLOFENAC [Concomitant]
     Active Substance: DICLOFENAC
     Indication: Product used for unknown indication
  1060. ASACOL [Concomitant]
     Active Substance: MESALAMINE
     Indication: Product used for unknown indication
  1061. CALCIUM [Concomitant]
     Active Substance: CALCIUM
     Indication: Product used for unknown indication
  1062. DIPHENHYDRAMINE [Concomitant]
     Active Substance: DIPHENHYDRAMINE
     Indication: Product used for unknown indication
  1063. EMEND [Concomitant]
     Active Substance: APREPITANT
     Indication: Product used for unknown indication
  1064. EMEND [Concomitant]
     Active Substance: APREPITANT
  1065. FOSAPREPITANT [Concomitant]
     Active Substance: FOSAPREPITANT
     Indication: Product used for unknown indication
  1066. HYALURONIDASE [Concomitant]
     Active Substance: HYALURONIDASE
     Indication: Product used for unknown indication
  1067. LANSOPRAZOLE [Concomitant]
     Active Substance: LANSOPRAZOLE
     Indication: Product used for unknown indication
  1068. CLIOQUINOL\FLUMETHASONE [Concomitant]
     Active Substance: CLIOQUINOL\FLUMETHASONE
     Indication: Product used for unknown indication
  1069. LORAZEPAM [Concomitant]
     Active Substance: LORAZEPAM
     Indication: Product used for unknown indication
  1070. MESALAMINE [Concomitant]
     Active Substance: MESALAMINE
     Indication: Product used for unknown indication
  1071. MORPHINE [Concomitant]
     Active Substance: MORPHINE
     Indication: Product used for unknown indication
  1072. PANTOPRAZOLE SODIUM [Concomitant]
     Active Substance: PANTOPRAZOLE SODIUM
     Indication: Product used for unknown indication
  1073. PARA-AMINOSALICYLIC ACID [Concomitant]
     Active Substance: AMINOSALICYLIC ACID
     Indication: Product used for unknown indication
  1074. PERCOCET [Concomitant]
     Active Substance: ACETAMINOPHEN\OXYCODONE HYDROCHLORIDE
     Indication: Product used for unknown indication
  1075. PERCOCET [Concomitant]
     Active Substance: ACETAMINOPHEN\OXYCODONE HYDROCHLORIDE
  1076. PREVACID [Concomitant]
     Active Substance: LANSOPRAZOLE
     Indication: Product used for unknown indication
  1077. ALBUTEROL [Concomitant]
     Active Substance: ALBUTEROL
     Indication: Product used for unknown indication
  1078. ZESTRIL [Concomitant]
     Active Substance: LISINOPRIL
     Indication: Product used for unknown indication
  1079. ACTIFED (PSEUDOEPHEDRINE HYDROCHLORIDE\TRIPROLIDINE HYDROCHLORIDE) [Concomitant]
     Active Substance: PSEUDOEPHEDRINE HYDROCHLORIDE\TRIPROLIDINE HYDROCHLORIDE
     Indication: Product used for unknown indication
  1080. SECUKINUMAB [Concomitant]
     Active Substance: SECUKINUMAB
     Indication: Product used for unknown indication
  1081. AZULFIDINE [Concomitant]
     Active Substance: SULFASALAZINE
     Indication: Product used for unknown indication
  1082. CLIOQUINOL [Concomitant]
     Active Substance: CLIOQUINOL
     Indication: Product used for unknown indication
  1083. DILTIAZEM HYDROCHLORIDE [Concomitant]
     Active Substance: DILTIAZEM HYDROCHLORIDE
     Indication: Product used for unknown indication
  1084. ACETAMINOPHEN [Concomitant]
     Active Substance: ACETAMINOPHEN
     Indication: Product used for unknown indication
  1085. ACETAMINOPHEN [Concomitant]
     Active Substance: ACETAMINOPHEN
     Route: 048
  1086. ACETAMINOPHEN\OXYCODONE HYDROCHLORIDE [Concomitant]
     Active Substance: ACETAMINOPHEN\OXYCODONE HYDROCHLORIDE
     Indication: Product used for unknown indication
  1087. HYALURONIDASE (HUMAN RECOMBINANT) [Concomitant]
     Active Substance: HYALURONIDASE (HUMAN RECOMBINANT)
     Indication: Product used for unknown indication
  1088. MINOCYCLINE HYDROCHLORIDE [Concomitant]
     Active Substance: MINOCYCLINE HYDROCHLORIDE
     Indication: Product used for unknown indication
  1089. PREDNISONE;RITUXIMAB [Concomitant]
     Indication: Product used for unknown indication
  1090. PREDNISONE;RITUXIMAB [Concomitant]
  1091. PREDNISONE;RITUXIMAB [Concomitant]
  1092. PREDNISONE;RITUXIMAB [Concomitant]
  1093. HYDROCORTISONE\NEOMYCIN\NITROFURAZONE\RETINOL\THYMOL\TYROTHRICIN [Concomitant]
     Active Substance: HYDROCORTISONE\NEOMYCIN\NITROFURAZONE\RETINOL\THYMOL\TYROTHRICIN
     Indication: Product used for unknown indication
  1094. HYDROCORTISONE\NEOMYCIN\NITROFURAZONE\RETINOL\THYMOL\TYROTHRICIN [Concomitant]
     Active Substance: HYDROCORTISONE\NEOMYCIN\NITROFURAZONE\RETINOL\THYMOL\TYROTHRICIN
  1095. FLUMETHASONE\SALICYLIC ACID [Concomitant]
     Active Substance: FLUMETHASONE\SALICYLIC ACID
     Indication: Product used for unknown indication
  1096. DESOXIMETASONE\FRAMYCETIN SULFATE\GRAMICIDIN [Concomitant]
     Active Substance: DESOXIMETASONE\FRAMYCETIN SULFATE\GRAMICIDIN
     Indication: Product used for unknown indication
  1097. CORTISONE ACETATE\DIPHENHYDRMINE HYDROCHLORIDE\SULFISOMIDINE [Concomitant]
     Active Substance: CORTISONE ACETATE\DIPHENHYDRAMINE HYDROCHLORIDE\SULFISOMIDINE
     Indication: Product used for unknown indication
  1098. CHLORHEXIDINE\SODIUM FLUORIDE\TRICLOSAN\ZINC CHLORIDE [Concomitant]
     Active Substance: CHLORHEXIDINE\SODIUM FLUORIDE\TRICLOSAN\ZINC CHLORIDE
     Indication: Product used for unknown indication
  1099. MINERALS\VITAMINS [Concomitant]
     Active Substance: MINERALS\VITAMINS
     Indication: Product used for unknown indication
  1100. AMINOSALICYLATE CALCIUM [Concomitant]
     Active Substance: AMINOSALICYLATE CALCIUM
     Indication: Product used for unknown indication
  1101. BUPIVACAINE HYDROCHLORIDE\CLONIDINE HYDROCHLORIDE\MORPHINE SULFATE [Concomitant]
     Active Substance: BUPIVACAINE HYDROCHLORIDE\CLONIDINE HYDROCHLORIDE\MORPHINE SULFATE
     Indication: Product used for unknown indication
  1102. AZATHIOPRINE SODIUM [Concomitant]
     Active Substance: AZATHIOPRINE SODIUM
     Indication: Product used for unknown indication
  1103. ALENDRONIC ACID\CALCIUM CITRATE\CHOLECALCIFEROL [Concomitant]
     Active Substance: ALENDRONIC ACID\CALCIUM CITRATE\CHOLECALCIFEROL
     Indication: Product used for unknown indication
  1104. ALENDRONATE SODIUM [Concomitant]
     Active Substance: ALENDRONATE SODIUM
     Indication: Product used for unknown indication
  1105. FISH OIL [Concomitant]
     Active Substance: FISH OIL
     Indication: Product used for unknown indication
  1106. ACETAMINOPHEN\CYANOCOBALAMIN\THIAMINE\TRAMADOL HYDROCHLORIDE [Concomitant]
     Active Substance: ACETAMINOPHEN\CYANOCOBALAMIN\THIAMINE\TRAMADOL HYDROCHLORIDE
     Indication: Product used for unknown indication
  1107. FLUOROMETHOLONE [Concomitant]
     Active Substance: FLUOROMETHOLONE
     Indication: Product used for unknown indication
  1108. ACETAMINOPHEN\CAFFEINE\CODEINE PHOSPHATE [Concomitant]
     Active Substance: ACETAMINOPHEN\CAFFEINE\CODEINE PHOSPHATE
     Indication: Product used for unknown indication
  1109. DIETARY SUPPLEMENT [Concomitant]
     Active Substance: DIETARY SUPPLEMENT
     Indication: Product used for unknown indication
  1110. DESOGESTREL AND ETHINYL ESTRADIOL [Concomitant]
     Active Substance: DESOGESTREL\ETHINYL ESTRADIOL
     Indication: Product used for unknown indication
  1111. DEXTROMETHORPHAN HYDROBROMIDE\TRIPROLIDINE HYDROCHLORIDE [Concomitant]
     Active Substance: DEXTROMETHORPHAN HYDROBROMIDE\TRIPROLIDINE HYDROCHLORIDE
     Indication: Product used for unknown indication
  1112. HYDROCORTISONE PROBUTATE [Concomitant]
     Active Substance: HYDROCORTISONE PROBUTATE
     Indication: Product used for unknown indication
  1113. TRIMETHOPRIM [Concomitant]
     Active Substance: TRIMETHOPRIM
     Indication: Product used for unknown indication
  1114. ERGOCALCIFEROL;RETINOL ACETATE [Concomitant]
     Indication: Product used for unknown indication
  1115. LANSOPRAZOLE\METRONIDAZOLE\TETRACYCLINE [Concomitant]
     Active Substance: LANSOPRAZOLE\METRONIDAZOLE\TETRACYCLINE
     Indication: Product used for unknown indication
  1116. PANTOPRAZOLE SODIUM [Concomitant]
     Active Substance: PANTOPRAZOLE SODIUM
     Indication: Product used for unknown indication
  1117. ACETAMINOPHEN AND CODEINE [Concomitant]
     Active Substance: ACETAMINOPHEN\CODEINE PHOSPHATE
     Indication: Product used for unknown indication
  1118. ALENDRONATE SODIUM\CHOLECALCIFEROL [Concomitant]
     Active Substance: ALENDRONATE SODIUM\CHOLECALCIFEROL
     Indication: Product used for unknown indication
  1119. CALCIUM\CHOLECALCIFEROL [Concomitant]
     Active Substance: CALCIUM\CHOLECALCIFEROL
     Indication: Product used for unknown indication
  1120. CALCIUM CARBONATE\CHOLECALCIFEROL [Concomitant]
     Active Substance: CALCIUM CARBONATE\CHOLECALCIFEROL
     Indication: Product used for unknown indication
  1121. CODEINE PHOSPHATE [Concomitant]
     Active Substance: CODEINE PHOSPHATE
     Indication: Product used for unknown indication
  1122. FLUMETHASONE PIVALATE [Concomitant]
     Active Substance: FLUMETHASONE PIVALATE
     Indication: Product used for unknown indication
  1123. NAPROSYN [Concomitant]
     Active Substance: NAPROXEN
     Indication: Product used for unknown indication
  1124. NAPROXEN [Concomitant]
     Active Substance: NAPROXEN
     Indication: Product used for unknown indication
  1125. NAPROXEN [Concomitant]
     Active Substance: NAPROXEN
  1126. PSEUDOEPHEDRINE HYDROCHLORIDE AND TRIPROLIDINE HYDROCHLORIDE [Concomitant]
     Active Substance: PSEUDOEPHEDRINE HYDROCHLORIDE\TRIPROLIDINE HYDROCHLORIDE
     Indication: Product used for unknown indication
  1127. DIETARY SUPPLEMENT [Concomitant]
     Active Substance: DIETARY SUPPLEMENT
     Indication: Product used for unknown indication
  1128. TRIPROLIDINE HYDROCHLORIDE [Concomitant]
     Active Substance: TRIPROLIDINE HYDROCHLORIDE
     Indication: Product used for unknown indication
  1129. VEDOLIZUMAB [Concomitant]
     Active Substance: VEDOLIZUMAB
     Indication: Product used for unknown indication
     Dosage: POWDER FOR SOLUTION INTRAVENOUS
  1130. CETIRIZINE HYDROCHLORIDE\PSEUDOEPHEDRINE HYDROCHLORIDE [Concomitant]
     Active Substance: CETIRIZINE HYDROCHLORIDE\PSEUDOEPHEDRINE HYDROCHLORIDE
     Indication: Product used for unknown indication
  1131. CLIOQUINOL [Concomitant]
     Active Substance: CLIOQUINOL
     Indication: Product used for unknown indication
  1132. DICLOFENAC DIETHYLAMINE [Concomitant]
     Active Substance: DICLOFENAC DIETHYLAMINE
     Indication: Product used for unknown indication
  1133. FLUMETHASONE [Concomitant]
     Active Substance: FLUMETHASONE
     Indication: Product used for unknown indication
  1134. BENYLIN [AMBROXOL HYDROCHLORIDE] [Concomitant]
     Indication: Product used for unknown indication
  1135. MARVELON [Concomitant]
     Active Substance: DESOGESTREL\ETHINYL ESTRADIOL
     Indication: Product used for unknown indication
  1136. PSEUDOEPHEDRINE HYDROCHLORIDE [Concomitant]
     Active Substance: PSEUDOEPHEDRINE HYDROCHLORIDE
     Indication: Product used for unknown indication
  1137. PSEUDOEPHEDRINE HYDROCHLORIDE [Concomitant]
     Active Substance: PSEUDOEPHEDRINE HYDROCHLORIDE
  1138. PSEUDOEPHEDRINE HYDROCHLORIDE [Concomitant]
     Active Substance: PSEUDOEPHEDRINE HYDROCHLORIDE
  1139. MOXIFLOXACIN [Concomitant]
     Active Substance: MOXIFLOXACIN
     Indication: Product used for unknown indication
  1140. ALFACALCIDOL [Concomitant]
     Active Substance: ALFACALCIDOL
     Indication: Product used for unknown indication
  1141. PREDNISONE ACETATE [Concomitant]
     Active Substance: PREDNISONE ACETATE
     Indication: Product used for unknown indication
  1142. ALFACALCIDOL [Concomitant]
     Active Substance: ALFACALCIDOL
     Indication: Product used for unknown indication
  1143. HYRIMOZ [Concomitant]
     Active Substance: ADALIMUMAB-ADAZ
     Indication: Product used for unknown indication
  1144. HYDROXYCHLOROQUINE [Concomitant]
     Active Substance: HYDROXYCHLOROQUINE
     Indication: Product used for unknown indication
  1145. HYDROXYCHLOROQUINE [Concomitant]
     Active Substance: HYDROXYCHLOROQUINE
  1146. HYDROXYCHLOROQUINE [Concomitant]
     Active Substance: HYDROXYCHLOROQUINE
  1147. CETRIMIDE [Concomitant]
     Active Substance: CETRIMIDE
     Indication: Product used for unknown indication
  1148. DEXAMETHASONE SODIUM PHOSPHATE [Concomitant]
     Active Substance: DEXAMETHASONE SODIUM PHOSPHATE
     Indication: Product used for unknown indication
  1149. HYDROCORTISONE PROBUTATE [Concomitant]
     Active Substance: HYDROCORTISONE PROBUTATE
     Indication: Product used for unknown indication
  1150. METHYLPREDNISOLONE SODIUM SUCCINATE [Concomitant]
     Active Substance: METHYLPREDNISOLONE SODIUM SUCCINATE
     Indication: Product used for unknown indication
  1151. NICOTINAMIDE [Concomitant]
     Active Substance: NIACINAMIDE
     Indication: Product used for unknown indication
  1152. CELECOXIB [Concomitant]
     Active Substance: CELECOXIB
     Indication: Product used for unknown indication
  1153. HYDROCORTISONE [Concomitant]
     Active Substance: HYDROCORTISONE
     Indication: Product used for unknown indication
  1154. LEFLUNOMIDE [Concomitant]
     Active Substance: LEFLUNOMIDE
     Indication: Product used for unknown indication
  1155. LEFLUNOMIDE [Concomitant]
     Active Substance: LEFLUNOMIDE
  1156. LEFLUNOMIDE [Concomitant]
     Active Substance: LEFLUNOMIDE
  1157. MYCOPHENOLATE MOFETIL [Concomitant]
     Active Substance: MYCOPHENOLATE MOFETIL
     Indication: Product used for unknown indication
  1158. PREGABALIN [Concomitant]
     Active Substance: PREGABALIN
     Indication: Product used for unknown indication
  1159. AIMOVIG [Concomitant]
     Active Substance: ERENUMAB-AOOE
     Indication: Product used for unknown indication
  1160. ATOMOXETINE HYDROCHLORIDE [Concomitant]
     Active Substance: ATOMOXETINE HYDROCHLORIDE
     Indication: Product used for unknown indication
  1161. BERINERT [Concomitant]
     Active Substance: HUMAN C1-ESTERASE INHIBITOR
     Indication: Product used for unknown indication
  1162. BETAMETHASONE [Concomitant]
     Active Substance: BETAMETHASONE
     Indication: Product used for unknown indication
  1163. BOTULINUM TOXIN TYPE A [Concomitant]
     Active Substance: BOTULINUM TOXIN TYPE A
     Indication: Product used for unknown indication
     Dosage: POWDER FOR SOLUTION
  1164. BUPRENORPHINE HYDROCHLORIDE [Concomitant]
     Active Substance: BUPRENORPHINE HYDROCHLORIDE
     Indication: Product used for unknown indication
  1165. BUTRANS [Concomitant]
     Active Substance: BUPRENORPHINE
     Indication: Product used for unknown indication
     Dosage: PATCH
  1166. CALCIUM ASCORBATE [Concomitant]
     Active Substance: CALCIUM ASCORBATE
     Indication: Product used for unknown indication
  1167. CANDESARTAN [Concomitant]
     Active Substance: CANDESARTAN
     Indication: Product used for unknown indication
  1168. CYCLOBENZAPRINE [Concomitant]
     Active Substance: CYCLOBENZAPRINE
     Indication: Product used for unknown indication
  1169. DOMPERIDONE MALEATE [Concomitant]
     Active Substance: DOMPERIDONE MALEATE
     Indication: Product used for unknown indication
  1170. ERENUMAB [Concomitant]
     Active Substance: ERENUMAB
     Indication: Product used for unknown indication
  1171. FINACEA [Concomitant]
     Active Substance: AZELAIC ACID
     Indication: Product used for unknown indication
  1172. FLUMETHASONE [Concomitant]
     Active Substance: FLUMETHASONE
     Indication: Product used for unknown indication
  1173. GOLD [Concomitant]
     Active Substance: GOLD
     Indication: Product used for unknown indication
  1174. GOLD SODIUM THIOMALATE [Concomitant]
     Active Substance: GOLD SODIUM THIOMALATE
     Indication: Product used for unknown indication
  1175. HYDROMORPHONE [Concomitant]
     Active Substance: HYDROMORPHONE
     Indication: Product used for unknown indication
  1176. HYDROXYCHLOROQUINE [Concomitant]
     Active Substance: HYDROXYCHLOROQUINE
     Indication: Product used for unknown indication
  1177. AMINOSALICYLATE CALCIUM [Concomitant]
     Active Substance: AMINOSALICYLATE CALCIUM
     Indication: Product used for unknown indication
  1178. CALCIUM CARBONATE;COLECALCIFEROL;COPPER SULFATE;MAGNESIUM CARBONATE;MA [Concomitant]
     Indication: Product used for unknown indication
  1179. CALCIUM LACTATE [Concomitant]
     Active Substance: CALCIUM LACTATE
     Indication: Product used for unknown indication
  1180. DOXYCYCLINE HYCLATE [Concomitant]
     Active Substance: DOXYCYCLINE HYCLATE
     Indication: Product used for unknown indication
  1181. DOXYCYCLINE HYCLATE [Concomitant]
     Active Substance: DOXYCYCLINE HYCLATE
  1182. DOXYCYCLINE HYCLATE [Concomitant]
     Active Substance: DOXYCYCLINE HYCLATE
  1183. ETHINYL ESTRADIOL\NORETHINDRONE [Concomitant]
     Active Substance: ETHINYL ESTRADIOL\NORETHINDRONE
     Indication: Product used for unknown indication
  1184. SULFAMETHOXAZOLE\TRIMETHOPRIM [Concomitant]
     Active Substance: SULFAMETHOXAZOLE\TRIMETHOPRIM
     Indication: Product used for unknown indication
  1185. APREMILAST [Concomitant]
     Active Substance: APREMILAST
     Indication: Product used for unknown indication
  1186. CETIRIZINE HYDROCHLORIDE [Concomitant]
     Active Substance: CETIRIZINE HYDROCHLORIDE
     Indication: Product used for unknown indication
  1187. BUPRENORPHINE [Concomitant]
     Active Substance: BUPRENORPHINE
     Indication: Product used for unknown indication
  1188. DOMPERIDONE MALEATE [Concomitant]
     Active Substance: DOMPERIDONE MALEATE
     Indication: Product used for unknown indication
  1189. LAMICTAL [Concomitant]
     Active Substance: LAMOTRIGINE
     Indication: Product used for unknown indication
  1190. LAMICTAL [Concomitant]
     Active Substance: LAMOTRIGINE
  1191. LAMOTRIGINE [Concomitant]
     Active Substance: LAMOTRIGINE
     Indication: Product used for unknown indication
  1192. LAMOTRIGINE [Concomitant]
     Active Substance: LAMOTRIGINE
  1193. LAMOTRIGINE [Concomitant]
     Active Substance: LAMOTRIGINE
  1194. LEVOMILNACIPRAN [Concomitant]
     Active Substance: LEVOMILNACIPRAN
     Indication: Product used for unknown indication
  1195. MAGNESIUM CITRATE [Concomitant]
     Active Substance: MAGNESIUM CITRATE
     Indication: Product used for unknown indication
  1196. MYRBETRIQ [Concomitant]
     Active Substance: MIRABEGRON
     Indication: Product used for unknown indication
  1197. MYCOPHENOLATE MOFETIL HYDROCHLORIDE [Concomitant]
     Active Substance: MYCOPHENOLATE MOFETIL HYDROCHLORIDE
     Indication: Product used for unknown indication
  1198. NUCALA [Concomitant]
     Active Substance: MEPOLIZUMAB
     Indication: Product used for unknown indication
  1199. RANITIDINE HYDROCHLORIDE [Concomitant]
     Active Substance: RANITIDINE HYDROCHLORIDE
     Indication: Product used for unknown indication
  1200. GOLD SODIUM THIOMALATE [Concomitant]
     Active Substance: GOLD SODIUM THIOMALATE
     Indication: Product used for unknown indication
  1201. TOPIRAMATE [Concomitant]
     Active Substance: TOPIRAMATE
     Indication: Product used for unknown indication
  1202. TOPIRAMATE [Concomitant]
     Active Substance: TOPIRAMATE
  1203. BETAMETHASONE DIPROPIONATE [Concomitant]
     Active Substance: BETAMETHASONE DIPROPIONATE
     Indication: Product used for unknown indication
  1204. HYDROMORPHONE HYDROCHLORIDE [Concomitant]
     Active Substance: HYDROMORPHONE HYDROCHLORIDE
     Indication: Product used for unknown indication
  1205. TIBOLONE [Concomitant]
     Active Substance: TIBOLONE
     Indication: Product used for unknown indication
  1206. BUPROPION [Concomitant]
     Active Substance: BUPROPION
     Indication: Product used for unknown indication
  1207. ACETAMINOPHEN\TRAMADOL [Concomitant]
     Active Substance: ACETAMINOPHEN\TRAMADOL
     Indication: Product used for unknown indication
  1208. ATOMOXETINE [Concomitant]
     Active Substance: ATOMOXETINE
     Indication: Product used for unknown indication
  1209. CYANOCOBALAMIN [Concomitant]
     Active Substance: CYANOCOBALAMIN
     Indication: Product used for unknown indication
  1210. MAGNESIUM CARBONATE [Concomitant]
     Active Substance: MAGNESIUM CARBONATE
     Indication: Product used for unknown indication
  1211. METHYLPREDNISOLONE [Concomitant]
     Active Substance: METHYLPREDNISOLONE
     Indication: Product used for unknown indication
  1212. MINOCYCLINE [Concomitant]
     Active Substance: MINOCYCLINE HYDROCHLORIDE
     Indication: Product used for unknown indication
  1213. SIRUKUMAB [Concomitant]
     Active Substance: SIRUKUMAB
     Indication: Product used for unknown indication
  1214. MYOCHRYSINE [Concomitant]
     Active Substance: GOLD SODIUM THIOMALATE
     Indication: Product used for unknown indication
     Dosage: SOLUTION?INTRAMUSCULAR

REACTIONS (2)
  - Congenital anomaly [Unknown]
  - Foetal exposure during pregnancy [Unknown]
